FAERS Safety Report 22803833 (Version 6)
Quarter: 2025Q2

REPORT INFORMATION
  Report Type: Spontaneous
  Country: CA (occurrence: CA)
  Receive Date: 20230809
  Receipt Date: 20250530
  Transmission Date: 20250717
  Serious: Yes (Death, Life-Threatening, Hospitalization, Disabling, Other)
  Sender: MYLAN
  Company Number: CA-MYLANLABS-2023M1082274

PATIENT
  Age: 50 Year
  Sex: Female
  Weight: 68 kg

DRUGS (1358)
  1. CELEBREX [Suspect]
     Active Substance: CELECOXIB
     Indication: Arthritis
     Dosage: 1 DOSAGE FORM, QD (1 EVERY 1 DAYS)
     Route: 048
  2. CELEBREX [Suspect]
     Active Substance: CELECOXIB
     Indication: Rheumatoid arthritis
     Dosage: 1 DOSAGE FORM, QD (1 EVERY 1 DAYS)
  3. CELEBREX [Suspect]
     Active Substance: CELECOXIB
     Dosage: 1 DOSAGE FORM, QD (1 EVERY 1 DAYS)
  4. CELEBREX [Suspect]
     Active Substance: CELECOXIB
     Dosage: 1 DOSAGE FORM, QD (1 EVERY 1 DAYS)
     Route: 048
  5. CELEBREX [Suspect]
     Active Substance: CELECOXIB
     Dosage: 2 DOSAGE FORM, QD (1 EVERY 1 DAYS)
     Route: 048
  6. CELEBREX [Suspect]
     Active Substance: CELECOXIB
     Dosage: 2 DOSAGE FORM, QD (1 EVERY 1 DAYS)
  7. CELEBREX [Suspect]
     Active Substance: CELECOXIB
     Dosage: 2 DOSAGE FORM, QD (1 EVERY 1 DAYS)
  8. CELEBREX [Suspect]
     Active Substance: CELECOXIB
     Dosage: 2 DOSAGE FORM, QD (1 EVERY 1 DAYS)
     Route: 048
  9. CELEBREX [Suspect]
     Active Substance: CELECOXIB
     Route: 065
  10. CELEBREX [Suspect]
     Active Substance: CELECOXIB
     Route: 065
  11. CELEBREX [Suspect]
     Active Substance: CELECOXIB
  12. CELEBREX [Suspect]
     Active Substance: CELECOXIB
  13. CELEBREX [Suspect]
     Active Substance: CELECOXIB
     Indication: Rheumatoid arthritis
     Dosage: 2 DOSAGE FORM, QD (1 EVERY 1 DAYS)
  14. CELEBREX [Suspect]
     Active Substance: CELECOXIB
     Indication: Arthritis
     Dosage: 2 DOSAGE FORM, QD (1 EVERY 1 DAYS)
     Route: 048
  15. CELEBREX [Suspect]
     Active Substance: CELECOXIB
     Dosage: 2 DOSAGE FORM, QD (1 EVERY 1 DAYS)
     Route: 048
  16. CELEBREX [Suspect]
     Active Substance: CELECOXIB
     Dosage: 2 DOSAGE FORM, QD (1 EVERY 1 DAYS)
  17. LYRICA [Suspect]
     Active Substance: PREGABALIN
     Indication: Product used for unknown indication
  18. LYRICA [Suspect]
     Active Substance: PREGABALIN
     Route: 065
  19. LYRICA [Suspect]
     Active Substance: PREGABALIN
     Route: 065
  20. LYRICA [Suspect]
     Active Substance: PREGABALIN
  21. ACETAMINOPHEN [Suspect]
     Active Substance: ACETAMINOPHEN
     Indication: Rheumatoid arthritis
  22. ACETAMINOPHEN [Suspect]
     Active Substance: ACETAMINOPHEN
     Route: 065
  23. ACETAMINOPHEN [Suspect]
     Active Substance: ACETAMINOPHEN
     Route: 065
  24. ACETAMINOPHEN [Suspect]
     Active Substance: ACETAMINOPHEN
  25. ALENDRONATE [Suspect]
     Active Substance: ALENDRONATE SODIUM
     Indication: Rheumatoid arthritis
  26. ALENDRONATE [Suspect]
     Active Substance: ALENDRONATE SODIUM
  27. ALENDRONATE [Suspect]
     Active Substance: ALENDRONATE SODIUM
     Route: 048
  28. ALENDRONATE [Suspect]
     Active Substance: ALENDRONATE SODIUM
     Route: 048
  29. ALENDRONATE [Suspect]
     Active Substance: ALENDRONATE SODIUM
  30. ALENDRONATE [Suspect]
     Active Substance: ALENDRONATE SODIUM
  31. ALENDRONATE [Suspect]
     Active Substance: ALENDRONATE SODIUM
     Route: 065
  32. ALENDRONATE [Suspect]
     Active Substance: ALENDRONATE SODIUM
     Route: 065
  33. ALENDRONATE [Suspect]
     Active Substance: ALENDRONATE SODIUM
     Indication: Rheumatoid arthritis
  34. ALENDRONATE [Suspect]
     Active Substance: ALENDRONATE SODIUM
     Route: 065
  35. ALENDRONATE [Suspect]
     Active Substance: ALENDRONATE SODIUM
     Route: 065
  36. ALENDRONATE [Suspect]
     Active Substance: ALENDRONATE SODIUM
  37. CALCIUM LACTATE [Suspect]
     Active Substance: CALCIUM LACTATE
     Indication: Product used for unknown indication
     Route: 065
  38. CALCIUM LACTATE [Suspect]
     Active Substance: CALCIUM LACTATE
  39. CALCIUM CARBONATE [Suspect]
     Active Substance: CALCIUM CARBONATE
     Indication: Product used for unknown indication
  40. CALCIUM CARBONATE [Suspect]
     Active Substance: CALCIUM CARBONATE
     Route: 016
  41. CALCIUM CARBONATE [Suspect]
     Active Substance: CALCIUM CARBONATE
     Route: 016
  42. CALCIUM CARBONATE [Suspect]
     Active Substance: CALCIUM CARBONATE
  43. CALCIUM LACTATE [Suspect]
     Active Substance: CALCIUM LACTATE
     Indication: Product used for unknown indication
  44. CALCIUM LACTATE [Suspect]
     Active Substance: CALCIUM LACTATE
  45. CALCIUM LACTATE [Suspect]
     Active Substance: CALCIUM LACTATE
     Route: 065
  46. CALCIUM LACTATE [Suspect]
     Active Substance: CALCIUM LACTATE
     Route: 065
  47. CALCIUM LACTATE [Suspect]
     Active Substance: CALCIUM LACTATE
  48. CALCIUM LACTATE [Suspect]
     Active Substance: CALCIUM LACTATE
  49. CALCIUM LACTATE [Suspect]
     Active Substance: CALCIUM LACTATE
     Route: 016
  50. CALCIUM LACTATE [Suspect]
     Active Substance: CALCIUM LACTATE
     Route: 016
  51. VITAMIN C [Suspect]
     Active Substance: ASCORBIC ACID
     Indication: Product used for unknown indication
  52. VITAMIN C [Suspect]
     Active Substance: ASCORBIC ACID
     Route: 065
  53. VITAMIN C [Suspect]
     Active Substance: ASCORBIC ACID
     Route: 065
  54. VITAMIN C [Suspect]
     Active Substance: ASCORBIC ACID
  55. ALENDRONATE [Suspect]
     Active Substance: ALENDRONATE SODIUM
     Indication: Rheumatoid arthritis
  56. ALENDRONATE [Suspect]
     Active Substance: ALENDRONATE SODIUM
  57. ALENDRONATE [Suspect]
     Active Substance: ALENDRONATE SODIUM
     Route: 016
  58. ALENDRONATE [Suspect]
     Active Substance: ALENDRONATE SODIUM
     Route: 016
  59. ALENDRONATE [Suspect]
     Active Substance: ALENDRONATE SODIUM
  60. ALENDRONATE [Suspect]
     Active Substance: ALENDRONATE SODIUM
  61. ALENDRONATE [Suspect]
     Active Substance: ALENDRONATE SODIUM
     Route: 048
  62. ALENDRONATE [Suspect]
     Active Substance: ALENDRONATE SODIUM
     Route: 048
  63. ALENDRONATE [Suspect]
     Active Substance: ALENDRONATE SODIUM
  64. ALENDRONATE [Suspect]
     Active Substance: ALENDRONATE SODIUM
  65. ALENDRONATE [Suspect]
     Active Substance: ALENDRONATE SODIUM
     Route: 005
  66. ALENDRONATE [Suspect]
     Active Substance: ALENDRONATE SODIUM
     Route: 005
  67. ALENDRONATE [Suspect]
     Active Substance: ALENDRONATE SODIUM
  68. ALENDRONATE [Suspect]
     Active Substance: ALENDRONATE SODIUM
  69. ALENDRONATE [Suspect]
     Active Substance: ALENDRONATE SODIUM
     Route: 058
  70. ALENDRONATE [Suspect]
     Active Substance: ALENDRONATE SODIUM
     Route: 058
  71. ALENDRONATE [Suspect]
     Active Substance: ALENDRONATE SODIUM
  72. ALENDRONATE [Suspect]
     Active Substance: ALENDRONATE SODIUM
     Route: 065
  73. ALENDRONATE [Suspect]
     Active Substance: ALENDRONATE SODIUM
  74. ALENDRONATE [Suspect]
     Active Substance: ALENDRONATE SODIUM
     Route: 065
  75. MYCOPHENOLATE MOFETIL [Suspect]
     Active Substance: MYCOPHENOLATE MOFETIL
     Indication: Product used for unknown indication
     Route: 065
  76. MYCOPHENOLATE MOFETIL [Suspect]
     Active Substance: MYCOPHENOLATE MOFETIL
  77. MYCOPHENOLATE MOFETIL [Suspect]
     Active Substance: MYCOPHENOLATE MOFETIL
  78. MYCOPHENOLATE MOFETIL [Suspect]
     Active Substance: MYCOPHENOLATE MOFETIL
     Route: 065
  79. MYCOPHENOLATE MOFETIL [Suspect]
     Active Substance: MYCOPHENOLATE MOFETIL
     Route: 042
  80. MYCOPHENOLATE MOFETIL [Suspect]
     Active Substance: MYCOPHENOLATE MOFETIL
  81. MYCOPHENOLATE MOFETIL [Suspect]
     Active Substance: MYCOPHENOLATE MOFETIL
  82. MYCOPHENOLATE MOFETIL [Suspect]
     Active Substance: MYCOPHENOLATE MOFETIL
     Route: 042
  83. QUETIAPINE FUMARATE [Suspect]
     Active Substance: QUETIAPINE FUMARATE
     Indication: Product used for unknown indication
  84. QUETIAPINE FUMARATE [Suspect]
     Active Substance: QUETIAPINE FUMARATE
     Route: 065
  85. QUETIAPINE FUMARATE [Suspect]
     Active Substance: QUETIAPINE FUMARATE
     Route: 065
  86. QUETIAPINE FUMARATE [Suspect]
     Active Substance: QUETIAPINE FUMARATE
  87. QUETIAPINE FUMARATE [Suspect]
     Active Substance: QUETIAPINE FUMARATE
     Indication: Product used for unknown indication
  88. QUETIAPINE FUMARATE [Suspect]
     Active Substance: QUETIAPINE FUMARATE
  89. QUETIAPINE FUMARATE [Suspect]
     Active Substance: QUETIAPINE FUMARATE
     Route: 042
  90. QUETIAPINE FUMARATE [Suspect]
     Active Substance: QUETIAPINE FUMARATE
     Route: 042
  91. QUETIAPINE FUMARATE [Suspect]
     Active Substance: QUETIAPINE FUMARATE
  92. QUETIAPINE FUMARATE [Suspect]
     Active Substance: QUETIAPINE FUMARATE
  93. QUETIAPINE FUMARATE [Suspect]
     Active Substance: QUETIAPINE FUMARATE
     Route: 065
  94. QUETIAPINE FUMARATE [Suspect]
     Active Substance: QUETIAPINE FUMARATE
     Route: 065
  95. ACTEMRA [Suspect]
     Active Substance: TOCILIZUMAB
     Indication: Rheumatoid arthritis
  96. ACTEMRA [Suspect]
     Active Substance: TOCILIZUMAB
  97. ACTEMRA [Suspect]
     Active Substance: TOCILIZUMAB
     Route: 042
  98. ACTEMRA [Suspect]
     Active Substance: TOCILIZUMAB
     Route: 042
  99. ACTEMRA [Suspect]
     Active Substance: TOCILIZUMAB
     Route: 016
  100. ACTEMRA [Suspect]
     Active Substance: TOCILIZUMAB
  101. ACTEMRA [Suspect]
     Active Substance: TOCILIZUMAB
  102. ACTEMRA [Suspect]
     Active Substance: TOCILIZUMAB
     Route: 016
  103. ACTEMRA [Suspect]
     Active Substance: TOCILIZUMAB
  104. ACTEMRA [Suspect]
     Active Substance: TOCILIZUMAB
  105. ACTEMRA [Suspect]
     Active Substance: TOCILIZUMAB
     Route: 058
  106. ACTEMRA [Suspect]
     Active Substance: TOCILIZUMAB
     Route: 058
  107. ACTEMRA [Suspect]
     Active Substance: TOCILIZUMAB
  108. ACTEMRA [Suspect]
     Active Substance: TOCILIZUMAB
  109. ACTEMRA [Suspect]
     Active Substance: TOCILIZUMAB
     Route: 042
  110. ACTEMRA [Suspect]
     Active Substance: TOCILIZUMAB
     Route: 042
  111. ACTEMRA [Suspect]
     Active Substance: TOCILIZUMAB
     Route: 048
  112. ACTEMRA [Suspect]
     Active Substance: TOCILIZUMAB
  113. ACTEMRA [Suspect]
     Active Substance: TOCILIZUMAB
  114. ACTEMRA [Suspect]
     Active Substance: TOCILIZUMAB
     Route: 048
  115. ACTEMRA [Suspect]
     Active Substance: TOCILIZUMAB
  116. ACTEMRA [Suspect]
     Active Substance: TOCILIZUMAB
  117. ACTEMRA [Suspect]
     Active Substance: TOCILIZUMAB
     Route: 042
  118. ACTEMRA [Suspect]
     Active Substance: TOCILIZUMAB
     Route: 042
  119. ACTEMRA [Suspect]
     Active Substance: TOCILIZUMAB
  120. ACTEMRA [Suspect]
     Active Substance: TOCILIZUMAB
  121. ACTEMRA [Suspect]
     Active Substance: TOCILIZUMAB
     Route: 016
  122. ACTEMRA [Suspect]
     Active Substance: TOCILIZUMAB
     Route: 016
  123. ACTEMRA [Suspect]
     Active Substance: TOCILIZUMAB
  124. ACTEMRA [Suspect]
     Active Substance: TOCILIZUMAB
  125. ACTEMRA [Suspect]
     Active Substance: TOCILIZUMAB
     Route: 065
  126. ACTEMRA [Suspect]
     Active Substance: TOCILIZUMAB
     Route: 065
  127. ACTEMRA [Suspect]
     Active Substance: TOCILIZUMAB
  128. ACTEMRA [Suspect]
     Active Substance: TOCILIZUMAB
  129. ACTEMRA [Suspect]
     Active Substance: TOCILIZUMAB
     Route: 042
  130. ACTEMRA [Suspect]
     Active Substance: TOCILIZUMAB
     Route: 042
  131. ACTEMRA [Suspect]
     Active Substance: TOCILIZUMAB
  132. ACTEMRA [Suspect]
     Active Substance: TOCILIZUMAB
     Route: 042
  133. ACTEMRA [Suspect]
     Active Substance: TOCILIZUMAB
  134. ACTEMRA [Suspect]
     Active Substance: TOCILIZUMAB
     Route: 042
  135. DICLOFENAC POTASSIUM [Suspect]
     Active Substance: DICLOFENAC POTASSIUM
     Indication: Product used for unknown indication
  136. DICLOFENAC POTASSIUM [Suspect]
     Active Substance: DICLOFENAC POTASSIUM
     Route: 065
  137. DICLOFENAC POTASSIUM [Suspect]
     Active Substance: DICLOFENAC POTASSIUM
     Route: 065
  138. DICLOFENAC POTASSIUM [Suspect]
     Active Substance: DICLOFENAC POTASSIUM
  139. PREDNISONE [Suspect]
     Active Substance: PREDNISONE
     Indication: Synovitis
     Route: 065
  140. PREDNISONE [Suspect]
     Active Substance: PREDNISONE
     Indication: Rheumatoid arthritis
  141. PREDNISONE [Suspect]
     Active Substance: PREDNISONE
     Indication: Psoriatic arthropathy
  142. PREDNISONE [Suspect]
     Active Substance: PREDNISONE
     Indication: Pemphigus
     Route: 065
  143. PREDNISONE [Suspect]
     Active Substance: PREDNISONE
     Indication: Inflammation
  144. PREDNISONE [Suspect]
     Active Substance: PREDNISONE
     Indication: Bursitis
  145. PREDNISONE [Suspect]
     Active Substance: PREDNISONE
     Indication: Systemic lupus erythematosus
     Route: 065
  146. PREDNISONE [Suspect]
     Active Substance: PREDNISONE
     Route: 065
  147. PREDNISONE [Suspect]
     Active Substance: PREDNISONE
     Route: 065
  148. PREDNISONE [Suspect]
     Active Substance: PREDNISONE
  149. PREDNISONE [Suspect]
     Active Substance: PREDNISONE
  150. PREDNISONE [Suspect]
     Active Substance: PREDNISONE
     Route: 065
  151. PREDNISONE [Suspect]
     Active Substance: PREDNISONE
  152. PREDNISONE [Suspect]
     Active Substance: PREDNISONE
  153. PREDNISONE [Suspect]
     Active Substance: PREDNISONE
     Route: 065
  154. PREDNISONE [Suspect]
     Active Substance: PREDNISONE
     Route: 065
  155. PREDNISONE [Suspect]
     Active Substance: PREDNISONE
  156. PREDNISONE [Suspect]
     Active Substance: PREDNISONE
  157. PREDNISONE [Suspect]
     Active Substance: PREDNISONE
     Route: 065
  158. PREDNISONE [Suspect]
     Active Substance: PREDNISONE
     Route: 065
  159. PREDNISONE [Suspect]
     Active Substance: PREDNISONE
  160. PREDNISONE [Suspect]
     Active Substance: PREDNISONE
     Route: 048
  161. PREDNISONE [Suspect]
     Active Substance: PREDNISONE
  162. PREDNISONE [Suspect]
     Active Substance: PREDNISONE
     Route: 048
  163. ARAVA [Suspect]
     Active Substance: LEFLUNOMIDE
     Indication: Rheumatoid arthritis
  164. ARAVA [Suspect]
     Active Substance: LEFLUNOMIDE
  165. ARAVA [Suspect]
     Active Substance: LEFLUNOMIDE
     Route: 065
  166. ARAVA [Suspect]
     Active Substance: LEFLUNOMIDE
     Route: 065
  167. ARAVA [Suspect]
     Active Substance: LEFLUNOMIDE
  168. ARAVA [Suspect]
     Active Substance: LEFLUNOMIDE
  169. ARAVA [Suspect]
     Active Substance: LEFLUNOMIDE
     Route: 005
  170. ARAVA [Suspect]
     Active Substance: LEFLUNOMIDE
     Route: 005
  171. ARAVA [Suspect]
     Active Substance: LEFLUNOMIDE
  172. ARAVA [Suspect]
     Active Substance: LEFLUNOMIDE
  173. ARAVA [Suspect]
     Active Substance: LEFLUNOMIDE
     Route: 048
  174. ARAVA [Suspect]
     Active Substance: LEFLUNOMIDE
     Route: 048
  175. ARAVA [Suspect]
     Active Substance: LEFLUNOMIDE
  176. ARAVA [Suspect]
     Active Substance: LEFLUNOMIDE
  177. ARAVA [Suspect]
     Active Substance: LEFLUNOMIDE
     Route: 048
  178. ARAVA [Suspect]
     Active Substance: LEFLUNOMIDE
     Route: 048
  179. ARAVA [Suspect]
     Active Substance: LEFLUNOMIDE
     Dosage: 20 MILLIGRAM, QD (1 EVERY 1 DAYS)
  180. ARAVA [Suspect]
     Active Substance: LEFLUNOMIDE
     Dosage: 20 MILLIGRAM, QD (1 EVERY 1 DAYS)
     Route: 048
  181. ARAVA [Suspect]
     Active Substance: LEFLUNOMIDE
     Dosage: 20 MILLIGRAM, QD (1 EVERY 1 DAYS)
  182. ARAVA [Suspect]
     Active Substance: LEFLUNOMIDE
     Dosage: 20 MILLIGRAM, QD (1 EVERY 1 DAYS)
     Route: 048
  183. CETIRIZINE [Suspect]
     Active Substance: CETIRIZINE HYDROCHLORIDE
     Indication: Rheumatoid arthritis
  184. CETIRIZINE [Suspect]
     Active Substance: CETIRIZINE HYDROCHLORIDE
     Indication: Off label use
  185. CETIRIZINE [Suspect]
     Active Substance: CETIRIZINE HYDROCHLORIDE
     Route: 065
  186. CETIRIZINE [Suspect]
     Active Substance: CETIRIZINE HYDROCHLORIDE
     Route: 065
  187. CETIRIZINE [Suspect]
     Active Substance: CETIRIZINE HYDROCHLORIDE
  188. CETIRIZINE [Suspect]
     Active Substance: CETIRIZINE HYDROCHLORIDE
  189. CETIRIZINE [Suspect]
     Active Substance: CETIRIZINE HYDROCHLORIDE
     Route: 048
  190. CETIRIZINE [Suspect]
     Active Substance: CETIRIZINE HYDROCHLORIDE
     Route: 048
  191. CETIRIZINE [Suspect]
     Active Substance: CETIRIZINE HYDROCHLORIDE
  192. CETIRIZINE [Suspect]
     Active Substance: CETIRIZINE HYDROCHLORIDE
     Route: 065
  193. CETIRIZINE [Suspect]
     Active Substance: CETIRIZINE HYDROCHLORIDE
  194. CETIRIZINE [Suspect]
     Active Substance: CETIRIZINE HYDROCHLORIDE
     Route: 065
  195. CETRIMIDE [Suspect]
     Active Substance: CETRIMIDE
     Indication: Product used for unknown indication
  196. CETRIMIDE [Suspect]
     Active Substance: CETRIMIDE
     Route: 065
  197. CETRIMIDE [Suspect]
     Active Substance: CETRIMIDE
     Route: 065
  198. CETRIMIDE [Suspect]
     Active Substance: CETRIMIDE
  199. CHLORHEXIDINE [Suspect]
     Active Substance: CHLORHEXIDINE
     Indication: Product used for unknown indication
  200. CHLORHEXIDINE [Suspect]
     Active Substance: CHLORHEXIDINE
     Route: 065
  201. CHLORHEXIDINE [Suspect]
     Active Substance: CHLORHEXIDINE
     Route: 065
  202. CHLORHEXIDINE [Suspect]
     Active Substance: CHLORHEXIDINE
  203. CHOLECALCIFEROL [Suspect]
     Active Substance: CHOLECALCIFEROL
     Indication: Rheumatoid arthritis
  204. CHOLECALCIFEROL [Suspect]
     Active Substance: CHOLECALCIFEROL
  205. CHOLECALCIFEROL [Suspect]
     Active Substance: CHOLECALCIFEROL
     Route: 048
  206. CHOLECALCIFEROL [Suspect]
     Active Substance: CHOLECALCIFEROL
     Route: 048
  207. CHOLECALCIFEROL [Suspect]
     Active Substance: CHOLECALCIFEROL
  208. CHOLECALCIFEROL [Suspect]
     Active Substance: CHOLECALCIFEROL
  209. CHOLECALCIFEROL [Suspect]
     Active Substance: CHOLECALCIFEROL
     Route: 065
  210. CHOLECALCIFEROL [Suspect]
     Active Substance: CHOLECALCIFEROL
     Route: 065
  211. CHOLECALCIFEROL [Suspect]
     Active Substance: CHOLECALCIFEROL
  212. CHOLECALCIFEROL [Suspect]
     Active Substance: CHOLECALCIFEROL
     Route: 065
  213. CHOLECALCIFEROL [Suspect]
     Active Substance: CHOLECALCIFEROL
  214. CHOLECALCIFEROL [Suspect]
     Active Substance: CHOLECALCIFEROL
     Route: 065
  215. CIMZIA [Suspect]
     Active Substance: CERTOLIZUMAB PEGOL
     Indication: Rheumatoid arthritis
  216. CIMZIA [Suspect]
     Active Substance: CERTOLIZUMAB PEGOL
     Indication: Psoriatic arthropathy
  217. CIMZIA [Suspect]
     Active Substance: CERTOLIZUMAB PEGOL
     Indication: Psoriasis
     Route: 058
  218. CIMZIA [Suspect]
     Active Substance: CERTOLIZUMAB PEGOL
     Route: 058
  219. CIMZIA [Suspect]
     Active Substance: CERTOLIZUMAB PEGOL
  220. CIMZIA [Suspect]
     Active Substance: CERTOLIZUMAB PEGOL
  221. CIMZIA [Suspect]
     Active Substance: CERTOLIZUMAB PEGOL
     Route: 058
  222. CIMZIA [Suspect]
     Active Substance: CERTOLIZUMAB PEGOL
     Route: 058
  223. CIMZIA [Suspect]
     Active Substance: CERTOLIZUMAB PEGOL
  224. CIMZIA [Suspect]
     Active Substance: CERTOLIZUMAB PEGOL
     Route: 065
  225. CIMZIA [Suspect]
     Active Substance: CERTOLIZUMAB PEGOL
  226. CIMZIA [Suspect]
     Active Substance: CERTOLIZUMAB PEGOL
     Route: 065
  227. CORTISONE [Suspect]
     Active Substance: CORTISONE
     Indication: Rheumatoid arthritis
  228. CORTISONE [Suspect]
     Active Substance: CORTISONE
     Route: 065
  229. CORTISONE [Suspect]
     Active Substance: CORTISONE
     Route: 065
  230. CORTISONE [Suspect]
     Active Substance: CORTISONE
  231. CORTISONE [Suspect]
     Active Substance: CORTISONE
     Indication: Rheumatoid arthritis
  232. CORTISONE [Suspect]
     Active Substance: CORTISONE
  233. CORTISONE [Suspect]
     Active Substance: CORTISONE
     Route: 065
  234. CORTISONE [Suspect]
     Active Substance: CORTISONE
     Route: 065
  235. CORTISONE [Suspect]
     Active Substance: CORTISONE
     Route: 065
  236. CORTISONE [Suspect]
     Active Substance: CORTISONE
     Route: 065
  237. CORTISONE [Suspect]
     Active Substance: CORTISONE
  238. CORTISONE [Suspect]
     Active Substance: CORTISONE
  239. CORTISONE [Suspect]
     Active Substance: CORTISONE
     Route: 048
  240. CORTISONE [Suspect]
     Active Substance: CORTISONE
     Route: 048
  241. CORTISONE [Suspect]
     Active Substance: CORTISONE
  242. CORTISONE [Suspect]
     Active Substance: CORTISONE
  243. CORTISONE [Suspect]
     Active Substance: CORTISONE
  244. CORTISONE [Suspect]
     Active Substance: CORTISONE
  245. CORTISONE [Suspect]
     Active Substance: CORTISONE
     Route: 058
  246. CORTISONE [Suspect]
     Active Substance: CORTISONE
     Route: 058
  247. CORTISONE ACETATE [Suspect]
     Active Substance: CORTISONE ACETATE
     Indication: Rheumatoid arthritis
  248. CORTISONE ACETATE [Suspect]
     Active Substance: CORTISONE ACETATE
  249. CORTISONE ACETATE [Suspect]
     Active Substance: CORTISONE ACETATE
     Route: 048
  250. CORTISONE ACETATE [Suspect]
     Active Substance: CORTISONE ACETATE
     Route: 048
  251. CORTISONE ACETATE [Suspect]
     Active Substance: CORTISONE ACETATE
  252. CORTISONE ACETATE [Suspect]
     Active Substance: CORTISONE ACETATE
  253. CORTISONE ACETATE [Suspect]
     Active Substance: CORTISONE ACETATE
     Route: 065
  254. CORTISONE ACETATE [Suspect]
     Active Substance: CORTISONE ACETATE
     Route: 065
  255. COSENTYX [Suspect]
     Active Substance: SECUKINUMAB
     Indication: Rheumatoid arthritis
  256. COSENTYX [Suspect]
     Active Substance: SECUKINUMAB
     Indication: Psoriatic arthropathy
  257. COSENTYX [Suspect]
     Active Substance: SECUKINUMAB
     Route: 005
  258. COSENTYX [Suspect]
     Active Substance: SECUKINUMAB
     Route: 005
  259. COSENTYX [Suspect]
     Active Substance: SECUKINUMAB
  260. COSENTYX [Suspect]
     Active Substance: SECUKINUMAB
  261. COSENTYX [Suspect]
     Active Substance: SECUKINUMAB
     Route: 016
  262. COSENTYX [Suspect]
     Active Substance: SECUKINUMAB
     Route: 016
  263. COSENTYX [Suspect]
     Active Substance: SECUKINUMAB
  264. COSENTYX [Suspect]
     Active Substance: SECUKINUMAB
     Route: 042
  265. COSENTYX [Suspect]
     Active Substance: SECUKINUMAB
  266. COSENTYX [Suspect]
     Active Substance: SECUKINUMAB
     Route: 042
  267. DESOXIMETASONE [Suspect]
     Active Substance: DESOXIMETASONE
     Indication: Rheumatoid arthritis
     Route: 065
  268. DESOXIMETASONE [Suspect]
     Active Substance: DESOXIMETASONE
  269. DESOXIMETASONE [Suspect]
     Active Substance: DESOXIMETASONE
  270. DESOXIMETASONE [Suspect]
     Active Substance: DESOXIMETASONE
     Route: 065
  271. DESOXIMETASONE [Suspect]
     Active Substance: DESOXIMETASONE
  272. DESOXIMETASONE [Suspect]
     Active Substance: DESOXIMETASONE
     Route: 016
  273. DESOXIMETASONE [Suspect]
     Active Substance: DESOXIMETASONE
     Route: 016
  274. DESOXIMETASONE [Suspect]
     Active Substance: DESOXIMETASONE
  275. DESOXIMETASONE [Suspect]
     Active Substance: DESOXIMETASONE
  276. DESOXIMETASONE [Suspect]
     Active Substance: DESOXIMETASONE
     Route: 048
  277. DESOXIMETASONE [Suspect]
     Active Substance: DESOXIMETASONE
     Route: 048
  278. DESOXIMETASONE [Suspect]
     Active Substance: DESOXIMETASONE
  279. DESOXIMETASONE [Suspect]
     Active Substance: DESOXIMETASONE
  280. DESOXIMETASONE [Suspect]
     Active Substance: DESOXIMETASONE
     Route: 048
  281. DESOXIMETASONE [Suspect]
     Active Substance: DESOXIMETASONE
     Route: 048
  282. DESOXIMETASONE [Suspect]
     Active Substance: DESOXIMETASONE
  283. DESOXIMETASONE [Suspect]
     Active Substance: DESOXIMETASONE
     Route: 003
  284. DESOXIMETASONE [Suspect]
     Active Substance: DESOXIMETASONE
     Route: 003
  285. DESOXIMETASONE [Suspect]
     Active Substance: DESOXIMETASONE
  286. DESOXIMETASONE [Suspect]
     Active Substance: DESOXIMETASONE
  287. DESOXIMETASONE [Suspect]
     Active Substance: DESOXIMETASONE
     Route: 058
  288. DESOXIMETASONE [Suspect]
     Active Substance: DESOXIMETASONE
  289. DESOXIMETASONE [Suspect]
     Active Substance: DESOXIMETASONE
  290. DESOXIMETASONE [Suspect]
     Active Substance: DESOXIMETASONE
     Route: 058
  291. DESOXIMETASONE [Suspect]
     Active Substance: DESOXIMETASONE
  292. DESOXIMETASONE [Suspect]
     Active Substance: DESOXIMETASONE
  293. DESOXIMETASONE [Suspect]
     Active Substance: DESOXIMETASONE
     Route: 065
  294. DESOXIMETASONE [Suspect]
     Active Substance: DESOXIMETASONE
     Route: 065
  295. DESOXIMETASONE [Suspect]
     Active Substance: DESOXIMETASONE
  296. DESOXIMETASONE [Suspect]
     Active Substance: DESOXIMETASONE
     Route: 065
  297. DESOXIMETASONE [Suspect]
     Active Substance: DESOXIMETASONE
  298. DESOXIMETASONE [Suspect]
     Active Substance: DESOXIMETASONE
     Route: 065
  299. DICLOFENAC [Suspect]
     Active Substance: DICLOFENAC
     Indication: Rheumatoid arthritis
  300. DICLOFENAC [Suspect]
     Active Substance: DICLOFENAC
     Indication: Osteoarthritis
     Route: 065
  301. DICLOFENAC [Suspect]
     Active Substance: DICLOFENAC
     Indication: Inflammation
     Route: 065
  302. DICLOFENAC [Suspect]
     Active Substance: DICLOFENAC
  303. DICLOFENAC SODIUM [Suspect]
     Active Substance: DICLOFENAC SODIUM
     Indication: Rheumatoid arthritis
  304. DICLOFENAC SODIUM [Suspect]
     Active Substance: DICLOFENAC SODIUM
     Indication: Osteoarthritis
  305. DICLOFENAC SODIUM [Suspect]
     Active Substance: DICLOFENAC SODIUM
     Indication: Inflammation
     Route: 058
  306. DICLOFENAC SODIUM [Suspect]
     Active Substance: DICLOFENAC SODIUM
     Route: 058
  307. DICLOFENAC SODIUM [Suspect]
     Active Substance: DICLOFENAC SODIUM
  308. DICLOFENAC SODIUM [Suspect]
     Active Substance: DICLOFENAC SODIUM
  309. DICLOFENAC SODIUM [Suspect]
     Active Substance: DICLOFENAC SODIUM
     Route: 065
  310. DICLOFENAC SODIUM [Suspect]
     Active Substance: DICLOFENAC SODIUM
     Route: 065
  311. DICLOFENAC SODIUM [Suspect]
     Active Substance: DICLOFENAC SODIUM
  312. DICLOFENAC SODIUM [Suspect]
     Active Substance: DICLOFENAC SODIUM
     Route: 065
  313. DICLOFENAC SODIUM [Suspect]
     Active Substance: DICLOFENAC SODIUM
  314. DICLOFENAC SODIUM [Suspect]
     Active Substance: DICLOFENAC SODIUM
     Route: 065
  315. DICLOFENAC SODIUM [Suspect]
     Active Substance: DICLOFENAC SODIUM
     Indication: Rheumatoid arthritis
  316. DICLOFENAC SODIUM [Suspect]
     Active Substance: DICLOFENAC SODIUM
     Indication: Osteoarthritis
  317. DICLOFENAC SODIUM [Suspect]
     Active Substance: DICLOFENAC SODIUM
     Indication: Inflammation
     Route: 065
  318. DICLOFENAC SODIUM [Suspect]
     Active Substance: DICLOFENAC SODIUM
     Route: 065
  319. DICLOFENAC SODIUM [Suspect]
     Active Substance: DICLOFENAC SODIUM
     Route: 065
  320. DICLOFENAC SODIUM [Suspect]
     Active Substance: DICLOFENAC SODIUM
     Route: 065
  321. DICLOFENAC SODIUM [Suspect]
     Active Substance: DICLOFENAC SODIUM
  322. DICLOFENAC SODIUM [Suspect]
     Active Substance: DICLOFENAC SODIUM
  323. DICLOFENAC SODIUM [Suspect]
     Active Substance: DICLOFENAC SODIUM
     Route: 065
  324. DICLOFENAC SODIUM [Suspect]
     Active Substance: DICLOFENAC SODIUM
  325. DICLOFENAC SODIUM [Suspect]
     Active Substance: DICLOFENAC SODIUM
  326. DICLOFENAC SODIUM [Suspect]
     Active Substance: DICLOFENAC SODIUM
     Route: 065
  327. DICLOFENAC SODIUM [Suspect]
     Active Substance: DICLOFENAC SODIUM
  328. DICLOFENAC SODIUM [Suspect]
     Active Substance: DICLOFENAC SODIUM
  329. DICLOFENAC SODIUM [Suspect]
     Active Substance: DICLOFENAC SODIUM
     Route: 058
  330. DICLOFENAC SODIUM [Suspect]
     Active Substance: DICLOFENAC SODIUM
     Route: 058
  331. ENBREL [Suspect]
     Active Substance: ETANERCEPT
     Indication: Rheumatoid arthritis
     Route: 058
  332. ENBREL [Suspect]
     Active Substance: ETANERCEPT
     Indication: Psoriatic arthropathy
  333. ENBREL [Suspect]
     Active Substance: ETANERCEPT
  334. ENBREL [Suspect]
     Active Substance: ETANERCEPT
     Route: 058
  335. ENBREL [Suspect]
     Active Substance: ETANERCEPT
     Dosage: 50 MILLIGRAM, QW
     Route: 058
  336. ENBREL [Suspect]
     Active Substance: ETANERCEPT
     Dosage: 50 MILLIGRAM, QW
  337. ENBREL [Suspect]
     Active Substance: ETANERCEPT
     Dosage: 50 MILLIGRAM, QW
  338. ENBREL [Suspect]
     Active Substance: ETANERCEPT
     Dosage: 50 MILLIGRAM, QW
     Route: 058
  339. ENBREL [Suspect]
     Active Substance: ETANERCEPT
  340. ENBREL [Suspect]
     Active Substance: ETANERCEPT
  341. ENBREL [Suspect]
     Active Substance: ETANERCEPT
     Route: 058
  342. ENBREL [Suspect]
     Active Substance: ETANERCEPT
     Route: 058
  343. ENBREL [Suspect]
     Active Substance: ETANERCEPT
  344. ENBREL [Suspect]
     Active Substance: ETANERCEPT
  345. ENBREL [Suspect]
     Active Substance: ETANERCEPT
     Route: 065
  346. ENBREL [Suspect]
     Active Substance: ETANERCEPT
     Route: 065
  347. ENBREL [Suspect]
     Active Substance: ETANERCEPT
     Indication: Rheumatoid arthritis
     Dosage: 50 MILLIGRAM, QW
     Dates: start: 20170710
  348. ENBREL [Suspect]
     Active Substance: ETANERCEPT
     Indication: Psoriatic arthropathy
     Dosage: 50 MILLIGRAM, QW
     Dates: start: 20170710
  349. ENBREL [Suspect]
     Active Substance: ETANERCEPT
     Dosage: 50 MILLIGRAM, QW
     Route: 065
     Dates: start: 20170710
  350. ENBREL [Suspect]
     Active Substance: ETANERCEPT
     Dosage: 50 MILLIGRAM, QW
     Route: 065
     Dates: start: 20170710
  351. ENBREL [Suspect]
     Active Substance: ETANERCEPT
  352. ENBREL [Suspect]
     Active Substance: ETANERCEPT
  353. ENBREL [Suspect]
     Active Substance: ETANERCEPT
     Route: 065
  354. ENBREL [Suspect]
     Active Substance: ETANERCEPT
     Route: 065
  355. ENBREL [Suspect]
     Active Substance: ETANERCEPT
  356. ENBREL [Suspect]
     Active Substance: ETANERCEPT
     Route: 065
  357. ENBREL [Suspect]
     Active Substance: ETANERCEPT
  358. ENBREL [Suspect]
     Active Substance: ETANERCEPT
     Route: 065
  359. FOLIC ACID [Suspect]
     Active Substance: FOLIC ACID
     Indication: Rheumatoid arthritis
     Route: 065
  360. FOLIC ACID [Suspect]
     Active Substance: FOLIC ACID
  361. FOLIC ACID [Suspect]
     Active Substance: FOLIC ACID
  362. FOLIC ACID [Suspect]
     Active Substance: FOLIC ACID
     Route: 065
  363. FOLIC ACID [Suspect]
     Active Substance: FOLIC ACID
     Route: 065
  364. FOLIC ACID [Suspect]
     Active Substance: FOLIC ACID
  365. FOLIC ACID [Suspect]
     Active Substance: FOLIC ACID
  366. FOLIC ACID [Suspect]
     Active Substance: FOLIC ACID
     Route: 065
  367. FOLIC ACID [Suspect]
     Active Substance: FOLIC ACID
     Route: 048
  368. FOLIC ACID [Suspect]
     Active Substance: FOLIC ACID
  369. FOLIC ACID [Suspect]
     Active Substance: FOLIC ACID
  370. FOLIC ACID [Suspect]
     Active Substance: FOLIC ACID
     Route: 048
  371. FOLIC ACID [Suspect]
     Active Substance: FOLIC ACID
     Route: 065
  372. FOLIC ACID [Suspect]
     Active Substance: FOLIC ACID
  373. FOLIC ACID [Suspect]
     Active Substance: FOLIC ACID
  374. FOLIC ACID [Suspect]
     Active Substance: FOLIC ACID
     Route: 065
  375. FOLIC ACID [Suspect]
     Active Substance: FOLIC ACID
  376. FOLIC ACID [Suspect]
     Active Substance: FOLIC ACID
     Route: 065
  377. FOLIC ACID [Suspect]
     Active Substance: FOLIC ACID
     Route: 065
  378. FOLIC ACID [Suspect]
     Active Substance: FOLIC ACID
  379. FOLIC ACID [Suspect]
     Active Substance: FOLIC ACID
     Route: 048
  380. FOLIC ACID [Suspect]
     Active Substance: FOLIC ACID
  381. FOLIC ACID [Suspect]
     Active Substance: FOLIC ACID
     Route: 048
  382. FOLIC ACID [Suspect]
     Active Substance: FOLIC ACID
  383. FOLIC ACID [Suspect]
     Active Substance: FOLIC ACID
     Route: 048
  384. FOLIC ACID [Suspect]
     Active Substance: FOLIC ACID
  385. FOLIC ACID [Suspect]
     Active Substance: FOLIC ACID
  386. FOLIC ACID [Suspect]
     Active Substance: FOLIC ACID
     Route: 048
  387. FOLIC ACID [Suspect]
     Active Substance: FOLIC ACID
  388. FOLIC ACID [Suspect]
     Active Substance: FOLIC ACID
     Route: 016
  389. FOLIC ACID [Suspect]
     Active Substance: FOLIC ACID
     Route: 016
  390. FOLIC ACID [Suspect]
     Active Substance: FOLIC ACID
  391. FOLIC ACID [Suspect]
     Active Substance: FOLIC ACID
     Route: 065
  392. FOLIC ACID [Suspect]
     Active Substance: FOLIC ACID
     Route: 065
  393. FOLIC ACID [Suspect]
     Active Substance: FOLIC ACID
  394. FOLIC ACID [Suspect]
     Active Substance: FOLIC ACID
  395. FOLIC ACID [Suspect]
     Active Substance: FOLIC ACID
     Route: 065
  396. FOLIC ACID [Suspect]
     Active Substance: FOLIC ACID
     Route: 065
  397. FOLIC ACID [Suspect]
     Active Substance: FOLIC ACID
  398. FOLIC ACID [Suspect]
     Active Substance: FOLIC ACID
  399. FOLIC ACID [Suspect]
     Active Substance: FOLIC ACID
     Route: 048
  400. FOLIC ACID [Suspect]
     Active Substance: FOLIC ACID
     Route: 048
  401. FOLIC ACID [Suspect]
     Active Substance: FOLIC ACID
  402. FOLIC ACID [Suspect]
     Active Substance: FOLIC ACID
  403. FOLIC ACID [Suspect]
     Active Substance: FOLIC ACID
     Route: 048
  404. FOLIC ACID [Suspect]
     Active Substance: FOLIC ACID
     Route: 048
  405. FOLIC ACID [Suspect]
     Active Substance: FOLIC ACID
  406. FOLIC ACID [Suspect]
     Active Substance: FOLIC ACID
  407. FOLIC ACID [Suspect]
     Active Substance: FOLIC ACID
  408. FOLIC ACID [Suspect]
     Active Substance: FOLIC ACID
  409. FOLIC ACID [Suspect]
     Active Substance: FOLIC ACID
     Route: 016
  410. FOLIC ACID [Suspect]
     Active Substance: FOLIC ACID
     Route: 016
  411. HUMIRA [Suspect]
     Active Substance: ADALIMUMAB
     Indication: Rheumatoid arthritis
  412. HUMIRA [Suspect]
     Active Substance: ADALIMUMAB
     Indication: Psoriatic arthropathy
  413. HUMIRA [Suspect]
     Active Substance: ADALIMUMAB
     Route: 058
  414. HUMIRA [Suspect]
     Active Substance: ADALIMUMAB
     Route: 058
  415. HUMIRA [Suspect]
     Active Substance: ADALIMUMAB
  416. HUMIRA [Suspect]
     Active Substance: ADALIMUMAB
  417. HUMIRA [Suspect]
     Active Substance: ADALIMUMAB
     Route: 058
  418. HUMIRA [Suspect]
     Active Substance: ADALIMUMAB
     Route: 058
  419. HYALURONIDASE [Suspect]
     Active Substance: HYALURONIDASE
     Indication: Rheumatoid arthritis
     Route: 065
  420. HYALURONIDASE [Suspect]
     Active Substance: HYALURONIDASE
  421. HYALURONIDASE [Suspect]
     Active Substance: HYALURONIDASE
  422. HYALURONIDASE [Suspect]
     Active Substance: HYALURONIDASE
     Route: 065
  423. HYALURONIDASE [Suspect]
     Active Substance: HYALURONIDASE
     Route: 048
  424. HYALURONIDASE [Suspect]
     Active Substance: HYALURONIDASE
  425. HYALURONIDASE [Suspect]
     Active Substance: HYALURONIDASE
  426. HYALURONIDASE [Suspect]
     Active Substance: HYALURONIDASE
     Route: 048
  427. HYDROCORTISONE [Suspect]
     Active Substance: HYDROCORTISONE
     Indication: Rheumatoid arthritis
  428. HYDROCORTISONE [Suspect]
     Active Substance: HYDROCORTISONE
     Indication: Inflammation
  429. HYDROCORTISONE [Suspect]
     Active Substance: HYDROCORTISONE
     Route: 065
  430. HYDROCORTISONE [Suspect]
     Active Substance: HYDROCORTISONE
     Route: 065
  431. HYDROCORTISONE [Suspect]
     Active Substance: HYDROCORTISONE
  432. HYDROCORTISONE [Suspect]
     Active Substance: HYDROCORTISONE
  433. HYDROCORTISONE [Suspect]
     Active Substance: HYDROCORTISONE
     Route: 058
  434. HYDROCORTISONE [Suspect]
     Active Substance: HYDROCORTISONE
     Route: 058
  435. HYDROCORTISONE [Suspect]
     Active Substance: HYDROCORTISONE
  436. HYDROCORTISONE [Suspect]
     Active Substance: HYDROCORTISONE
     Route: 048
  437. HYDROCORTISONE [Suspect]
     Active Substance: HYDROCORTISONE
  438. HYDROCORTISONE [Suspect]
     Active Substance: HYDROCORTISONE
     Route: 048
  439. HYDROCORTISONE ACETATE [Suspect]
     Active Substance: HYDROCORTISONE ACETATE
     Indication: Rheumatoid arthritis
  440. HYDROCORTISONE ACETATE [Suspect]
     Active Substance: HYDROCORTISONE ACETATE
  441. HYDROCORTISONE ACETATE [Suspect]
     Active Substance: HYDROCORTISONE ACETATE
     Route: 058
  442. HYDROCORTISONE ACETATE [Suspect]
     Active Substance: HYDROCORTISONE ACETATE
     Route: 058
  443. HYDROCORTISONE ACETATE [Suspect]
     Active Substance: HYDROCORTISONE ACETATE
  444. HYDROCORTISONE ACETATE [Suspect]
     Active Substance: HYDROCORTISONE ACETATE
  445. HYDROCORTISONE ACETATE [Suspect]
     Active Substance: HYDROCORTISONE ACETATE
     Route: 065
  446. HYDROCORTISONE ACETATE [Suspect]
     Active Substance: HYDROCORTISONE ACETATE
     Route: 065
  447. HYDROXYCHLOROQUINE [Suspect]
     Active Substance: HYDROXYCHLOROQUINE
     Indication: Rheumatoid arthritis
  448. HYDROXYCHLOROQUINE [Suspect]
     Active Substance: HYDROXYCHLOROQUINE
     Indication: Systemic lupus erythematosus
  449. HYDROXYCHLOROQUINE [Suspect]
     Active Substance: HYDROXYCHLOROQUINE
     Route: 065
  450. HYDROXYCHLOROQUINE [Suspect]
     Active Substance: HYDROXYCHLOROQUINE
     Route: 065
  451. HYDROXYCHLOROQUINE [Suspect]
     Active Substance: HYDROXYCHLOROQUINE
     Route: 048
  452. HYDROXYCHLOROQUINE [Suspect]
     Active Substance: HYDROXYCHLOROQUINE
     Route: 048
  453. HYDROXYCHLOROQUINE [Suspect]
     Active Substance: HYDROXYCHLOROQUINE
  454. HYDROXYCHLOROQUINE [Suspect]
     Active Substance: HYDROXYCHLOROQUINE
  455. HYDROXYCHLOROQUINE [Suspect]
     Active Substance: HYDROXYCHLOROQUINE
     Route: 005
  456. HYDROXYCHLOROQUINE [Suspect]
     Active Substance: HYDROXYCHLOROQUINE
     Route: 005
  457. HYDROXYCHLOROQUINE [Suspect]
     Active Substance: HYDROXYCHLOROQUINE
  458. HYDROXYCHLOROQUINE [Suspect]
     Active Substance: HYDROXYCHLOROQUINE
  459. HYDROXYCHLOROQUINE [Suspect]
     Active Substance: HYDROXYCHLOROQUINE
     Route: 048
  460. HYDROXYCHLOROQUINE [Suspect]
     Active Substance: HYDROXYCHLOROQUINE
     Route: 048
  461. HYDROXYCHLOROQUINE [Suspect]
     Active Substance: HYDROXYCHLOROQUINE
  462. HYDROXYCHLOROQUINE [Suspect]
     Active Substance: HYDROXYCHLOROQUINE
  463. HYDROXYCHLOROQUINE [Suspect]
     Active Substance: HYDROXYCHLOROQUINE
     Dosage: 400 MILLIGRAM, QD (1 EVERY 1 DAYS)
     Route: 048
  464. HYDROXYCHLOROQUINE [Suspect]
     Active Substance: HYDROXYCHLOROQUINE
     Dosage: 400 MILLIGRAM, QD (1 EVERY 1 DAYS)
     Route: 048
  465. HYDROXYCHLOROQUINE [Suspect]
     Active Substance: HYDROXYCHLOROQUINE
     Dosage: 400 MILLIGRAM, QD (1 EVERY 1 DAYS)
  466. HYDROXYCHLOROQUINE [Suspect]
     Active Substance: HYDROXYCHLOROQUINE
     Dosage: 400 MILLIGRAM, QD (1 EVERY 1 DAYS)
  467. HYDROXYCHLOROQUINE [Suspect]
     Active Substance: HYDROXYCHLOROQUINE
     Dosage: 1 MILLIGRAM, QD (1 EVERY 1 DAYS)
     Route: 048
  468. HYDROXYCHLOROQUINE [Suspect]
     Active Substance: HYDROXYCHLOROQUINE
     Dosage: 1 MILLIGRAM, QD (1 EVERY 1 DAYS)
     Route: 048
  469. HYDROXYCHLOROQUINE [Suspect]
     Active Substance: HYDROXYCHLOROQUINE
     Dosage: 1 MILLIGRAM, QD (1 EVERY 1 DAYS)
  470. HYDROXYCHLOROQUINE [Suspect]
     Active Substance: HYDROXYCHLOROQUINE
     Dosage: 1 MILLIGRAM, QD (1 EVERY 1 DAYS)
  471. HYDROXYCHLOROQUINE [Suspect]
     Active Substance: HYDROXYCHLOROQUINE
     Dosage: 40 MILLIGRAM, QD (1 EVERY 1 DAYS)
     Route: 066
  472. HYDROXYCHLOROQUINE [Suspect]
     Active Substance: HYDROXYCHLOROQUINE
     Dosage: 40 MILLIGRAM, QD (1 EVERY 1 DAYS)
     Route: 066
  473. HYDROXYCHLOROQUINE [Suspect]
     Active Substance: HYDROXYCHLOROQUINE
     Dosage: 40 MILLIGRAM, QD (1 EVERY 1 DAYS)
  474. HYDROXYCHLOROQUINE [Suspect]
     Active Substance: HYDROXYCHLOROQUINE
     Dosage: 40 MILLIGRAM, QD (1 EVERY 1 DAYS)
  475. HYDROXYCHLOROQUINE [Suspect]
     Active Substance: HYDROXYCHLOROQUINE
  476. HYDROXYCHLOROQUINE [Suspect]
     Active Substance: HYDROXYCHLOROQUINE
  477. HYDROXYCHLOROQUINE [Suspect]
     Active Substance: HYDROXYCHLOROQUINE
     Route: 058
  478. HYDROXYCHLOROQUINE [Suspect]
     Active Substance: HYDROXYCHLOROQUINE
     Route: 058
  479. HYDROXYCHLOROQUINE SULFATE [Suspect]
     Active Substance: HYDROXYCHLOROQUINE SULFATE
     Indication: Rheumatoid arthritis
     Dosage: 400 MILLIGRAM, QD (1 EVERY 1 DAYS)
     Route: 065
  480. HYDROXYCHLOROQUINE SULFATE [Suspect]
     Active Substance: HYDROXYCHLOROQUINE SULFATE
     Indication: Systemic lupus erythematosus
     Dosage: 400 MILLIGRAM, QD (1 EVERY 1 DAYS)
     Route: 065
  481. HYDROXYCHLOROQUINE SULFATE [Suspect]
     Active Substance: HYDROXYCHLOROQUINE SULFATE
     Dosage: 400 MILLIGRAM, QD (1 EVERY 1 DAYS)
  482. HYDROXYCHLOROQUINE SULFATE [Suspect]
     Active Substance: HYDROXYCHLOROQUINE SULFATE
     Dosage: 400 MILLIGRAM, QD (1 EVERY 1 DAYS)
  483. HYDROXYCHLOROQUINE SULFATE [Suspect]
     Active Substance: HYDROXYCHLOROQUINE SULFATE
     Dosage: 400 MILLIGRAM, QD (1 EVERY 1 DAYS)
     Route: 048
  484. HYDROXYCHLOROQUINE SULFATE [Suspect]
     Active Substance: HYDROXYCHLOROQUINE SULFATE
     Dosage: 400 MILLIGRAM, QD (1 EVERY 1 DAYS)
     Route: 048
  485. HYDROXYCHLOROQUINE SULFATE [Suspect]
     Active Substance: HYDROXYCHLOROQUINE SULFATE
     Dosage: 400 MILLIGRAM, QD (1 EVERY 1 DAYS)
  486. HYDROXYCHLOROQUINE SULFATE [Suspect]
     Active Substance: HYDROXYCHLOROQUINE SULFATE
     Dosage: 400 MILLIGRAM, QD (1 EVERY 1 DAYS)
  487. HYDROXYCHLOROQUINE SULFATE [Suspect]
     Active Substance: HYDROXYCHLOROQUINE SULFATE
     Route: 065
  488. HYDROXYCHLOROQUINE SULFATE [Suspect]
     Active Substance: HYDROXYCHLOROQUINE SULFATE
     Route: 065
  489. HYDROXYCHLOROQUINE SULFATE [Suspect]
     Active Substance: HYDROXYCHLOROQUINE SULFATE
  490. HYDROXYCHLOROQUINE SULFATE [Suspect]
     Active Substance: HYDROXYCHLOROQUINE SULFATE
  491. HYDROXYCHLOROQUINE SULFATE [Suspect]
     Active Substance: HYDROXYCHLOROQUINE SULFATE
     Route: 005
  492. HYDROXYCHLOROQUINE SULFATE [Suspect]
     Active Substance: HYDROXYCHLOROQUINE SULFATE
     Route: 005
  493. HYDROXYCHLOROQUINE SULFATE [Suspect]
     Active Substance: HYDROXYCHLOROQUINE SULFATE
  494. HYDROXYCHLOROQUINE SULFATE [Suspect]
     Active Substance: HYDROXYCHLOROQUINE SULFATE
  495. HYDROXYCHLOROQUINE SULFATE [Suspect]
     Active Substance: HYDROXYCHLOROQUINE SULFATE
  496. HYDROXYCHLOROQUINE SULFATE [Suspect]
     Active Substance: HYDROXYCHLOROQUINE SULFATE
  497. HYDROXYCHLOROQUINE SULFATE [Suspect]
     Active Substance: HYDROXYCHLOROQUINE SULFATE
     Route: 048
  498. HYDROXYCHLOROQUINE SULFATE [Suspect]
     Active Substance: HYDROXYCHLOROQUINE SULFATE
     Route: 048
  499. HYDROXYCHLOROQUINE SULFATE [Suspect]
     Active Substance: HYDROXYCHLOROQUINE SULFATE
     Route: 058
  500. HYDROXYCHLOROQUINE SULFATE [Suspect]
     Active Substance: HYDROXYCHLOROQUINE SULFATE
     Route: 058
  501. HYDROXYCHLOROQUINE SULFATE [Suspect]
     Active Substance: HYDROXYCHLOROQUINE SULFATE
  502. HYDROXYCHLOROQUINE SULFATE [Suspect]
     Active Substance: HYDROXYCHLOROQUINE SULFATE
  503. HYDROXYCHLOROQUINE SULFATE [Suspect]
     Active Substance: HYDROXYCHLOROQUINE SULFATE
  504. HYDROXYCHLOROQUINE SULFATE [Suspect]
     Active Substance: HYDROXYCHLOROQUINE SULFATE
  505. HYDROXYCHLOROQUINE SULFATE [Suspect]
     Active Substance: HYDROXYCHLOROQUINE SULFATE
     Route: 048
  506. HYDROXYCHLOROQUINE SULFATE [Suspect]
     Active Substance: HYDROXYCHLOROQUINE SULFATE
     Route: 048
  507. HYDROXYCHLOROQUINE SULFATE [Suspect]
     Active Substance: HYDROXYCHLOROQUINE SULFATE
     Dosage: 400 MILLIGRAM, QD (1 EVERY 1 DAYS)
     Route: 066
  508. HYDROXYCHLOROQUINE SULFATE [Suspect]
     Active Substance: HYDROXYCHLOROQUINE SULFATE
     Dosage: 400 MILLIGRAM, QD (1 EVERY 1 DAYS)
     Route: 066
  509. HYDROXYCHLOROQUINE SULFATE [Suspect]
     Active Substance: HYDROXYCHLOROQUINE SULFATE
     Dosage: 400 MILLIGRAM, QD (1 EVERY 1 DAYS)
  510. HYDROXYCHLOROQUINE SULFATE [Suspect]
     Active Substance: HYDROXYCHLOROQUINE SULFATE
     Dosage: 400 MILLIGRAM, QD (1 EVERY 1 DAYS)
  511. IBUPROFEN [Suspect]
     Active Substance: IBUPROFEN
     Indication: Rheumatoid arthritis
  512. IBUPROFEN [Suspect]
     Active Substance: IBUPROFEN
     Route: 065
  513. IBUPROFEN [Suspect]
     Active Substance: IBUPROFEN
     Route: 065
  514. IBUPROFEN [Suspect]
     Active Substance: IBUPROFEN
  515. IBUPROFEN [Suspect]
     Active Substance: IBUPROFEN
     Indication: Rheumatoid arthritis
  516. IBUPROFEN [Suspect]
     Active Substance: IBUPROFEN
     Route: 065
  517. IBUPROFEN [Suspect]
     Active Substance: IBUPROFEN
     Route: 065
  518. IBUPROFEN [Suspect]
     Active Substance: IBUPROFEN
  519. INFLIXIMAB [Suspect]
     Active Substance: INFLIXIMAB
     Indication: Rheumatoid arthritis
  520. INFLIXIMAB [Suspect]
     Active Substance: INFLIXIMAB
     Indication: Psoriatic arthropathy
  521. INFLIXIMAB [Suspect]
     Active Substance: INFLIXIMAB
     Route: 065
  522. INFLIXIMAB [Suspect]
     Active Substance: INFLIXIMAB
     Route: 065
  523. INFLIXIMAB [Suspect]
     Active Substance: INFLIXIMAB
  524. INFLIXIMAB [Suspect]
     Active Substance: INFLIXIMAB
  525. INFLIXIMAB [Suspect]
     Active Substance: INFLIXIMAB
     Route: 042
  526. INFLIXIMAB [Suspect]
     Active Substance: INFLIXIMAB
     Route: 042
  527. INFLIXIMAB [Suspect]
     Active Substance: INFLIXIMAB
  528. INFLIXIMAB [Suspect]
     Active Substance: INFLIXIMAB
     Route: 065
  529. INFLIXIMAB [Suspect]
     Active Substance: INFLIXIMAB
  530. INFLIXIMAB [Suspect]
     Active Substance: INFLIXIMAB
     Route: 065
  531. KEVZARA [Suspect]
     Active Substance: SARILUMAB
     Indication: Rheumatoid arthritis
  532. KEVZARA [Suspect]
     Active Substance: SARILUMAB
  533. KEVZARA [Suspect]
     Active Substance: SARILUMAB
     Route: 016
  534. KEVZARA [Suspect]
     Active Substance: SARILUMAB
     Route: 016
  535. KEVZARA [Suspect]
     Active Substance: SARILUMAB
  536. KEVZARA [Suspect]
     Active Substance: SARILUMAB
  537. KEVZARA [Suspect]
     Active Substance: SARILUMAB
     Route: 065
  538. KEVZARA [Suspect]
     Active Substance: SARILUMAB
     Route: 065
  539. KEVZARA [Suspect]
     Active Substance: SARILUMAB
  540. KEVZARA [Suspect]
     Active Substance: SARILUMAB
     Route: 065
  541. KEVZARA [Suspect]
     Active Substance: SARILUMAB
  542. KEVZARA [Suspect]
     Active Substance: SARILUMAB
     Route: 065
  543. LEFLUNOMIDE [Suspect]
     Active Substance: LEFLUNOMIDE
     Indication: Rheumatoid arthritis
     Dosage: 1 DOSAGE FORM, QD (1 EVERY 1 DAYS)
     Route: 065
  544. LEFLUNOMIDE [Suspect]
     Active Substance: LEFLUNOMIDE
     Dosage: 1 DOSAGE FORM, QD (1 EVERY 1 DAYS)
  545. LEFLUNOMIDE [Suspect]
     Active Substance: LEFLUNOMIDE
     Dosage: 1 DOSAGE FORM, QD (1 EVERY 1 DAYS)
  546. LEFLUNOMIDE [Suspect]
     Active Substance: LEFLUNOMIDE
     Dosage: 1 DOSAGE FORM, QD (1 EVERY 1 DAYS)
     Route: 065
  547. LEFLUNOMIDE [Suspect]
     Active Substance: LEFLUNOMIDE
  548. LEFLUNOMIDE [Suspect]
     Active Substance: LEFLUNOMIDE
  549. LEFLUNOMIDE [Suspect]
     Active Substance: LEFLUNOMIDE
     Route: 048
  550. LEFLUNOMIDE [Suspect]
     Active Substance: LEFLUNOMIDE
     Route: 048
  551. LEFLUNOMIDE [Suspect]
     Active Substance: LEFLUNOMIDE
     Dosage: 20 DOSAGE FORM, QD (1 EVERY 1 DAYS)
     Route: 048
  552. LEFLUNOMIDE [Suspect]
     Active Substance: LEFLUNOMIDE
     Dosage: 20 DOSAGE FORM, QD (1 EVERY 1 DAYS)
  553. LEFLUNOMIDE [Suspect]
     Active Substance: LEFLUNOMIDE
     Dosage: 20 DOSAGE FORM, QD (1 EVERY 1 DAYS)
  554. LEFLUNOMIDE [Suspect]
     Active Substance: LEFLUNOMIDE
     Dosage: 20 DOSAGE FORM, QD (1 EVERY 1 DAYS)
     Route: 048
  555. LEFLUNOMIDE [Suspect]
     Active Substance: LEFLUNOMIDE
  556. LEFLUNOMIDE [Suspect]
     Active Substance: LEFLUNOMIDE
  557. LEFLUNOMIDE [Suspect]
     Active Substance: LEFLUNOMIDE
     Route: 048
  558. LEFLUNOMIDE [Suspect]
     Active Substance: LEFLUNOMIDE
     Route: 048
  559. LEFLUNOMIDE [Suspect]
     Active Substance: LEFLUNOMIDE
  560. LEFLUNOMIDE [Suspect]
     Active Substance: LEFLUNOMIDE
  561. LEFLUNOMIDE [Suspect]
     Active Substance: LEFLUNOMIDE
     Route: 058
  562. LEFLUNOMIDE [Suspect]
     Active Substance: LEFLUNOMIDE
     Route: 058
  563. LEFLUNOMIDE [Suspect]
     Active Substance: LEFLUNOMIDE
  564. LEFLUNOMIDE [Suspect]
     Active Substance: LEFLUNOMIDE
     Route: 065
  565. LEFLUNOMIDE [Suspect]
     Active Substance: LEFLUNOMIDE
  566. LEFLUNOMIDE [Suspect]
     Active Substance: LEFLUNOMIDE
     Route: 065
  567. FLUMETHASONE PIVALATE [Suspect]
     Active Substance: FLUMETHASONE PIVALATE
     Indication: Rheumatoid arthritis
  568. FLUMETHASONE PIVALATE [Suspect]
     Active Substance: FLUMETHASONE PIVALATE
  569. FLUMETHASONE PIVALATE [Suspect]
     Active Substance: FLUMETHASONE PIVALATE
     Route: 003
  570. FLUMETHASONE PIVALATE [Suspect]
     Active Substance: FLUMETHASONE PIVALATE
     Route: 003
  571. FLUMETHASONE PIVALATE [Suspect]
     Active Substance: FLUMETHASONE PIVALATE
  572. FLUMETHASONE PIVALATE [Suspect]
     Active Substance: FLUMETHASONE PIVALATE
  573. FLUMETHASONE PIVALATE [Suspect]
     Active Substance: FLUMETHASONE PIVALATE
     Route: 058
  574. FLUMETHASONE PIVALATE [Suspect]
     Active Substance: FLUMETHASONE PIVALATE
     Route: 058
  575. METHOTREXATE [Suspect]
     Active Substance: METHOTREXATE
     Indication: Rheumatoid arthritis
     Route: 048
  576. METHOTREXATE [Suspect]
     Active Substance: METHOTREXATE
  577. METHOTREXATE [Suspect]
     Active Substance: METHOTREXATE
  578. METHOTREXATE [Suspect]
     Active Substance: METHOTREXATE
     Route: 048
  579. METHOTREXATE [Suspect]
     Active Substance: METHOTREXATE
     Dosage: 1 DOSAGE FORM, QD (1 EVERY 1 DAYS)
  580. METHOTREXATE [Suspect]
     Active Substance: METHOTREXATE
     Dosage: 1 DOSAGE FORM, QD (1 EVERY 1 DAYS)
  581. METHOTREXATE [Suspect]
     Active Substance: METHOTREXATE
     Dosage: 1 DOSAGE FORM, QD (1 EVERY 1 DAYS)
     Route: 048
  582. METHOTREXATE [Suspect]
     Active Substance: METHOTREXATE
     Dosage: 1 DOSAGE FORM, QD (1 EVERY 1 DAYS)
     Route: 048
  583. METHOTREXATE [Suspect]
     Active Substance: METHOTREXATE
     Route: 065
  584. METHOTREXATE [Suspect]
     Active Substance: METHOTREXATE
     Route: 065
  585. METHOTREXATE [Suspect]
     Active Substance: METHOTREXATE
  586. METHOTREXATE [Suspect]
     Active Substance: METHOTREXATE
  587. METHOTREXATE [Suspect]
     Active Substance: METHOTREXATE
     Dosage: 2 GRAM, QD (1 EVERY 1 DAYS)
  588. METHOTREXATE [Suspect]
     Active Substance: METHOTREXATE
     Dosage: 2 GRAM, QD (1 EVERY 1 DAYS)
     Route: 048
  589. METHOTREXATE [Suspect]
     Active Substance: METHOTREXATE
     Dosage: 2 GRAM, QD (1 EVERY 1 DAYS)
     Route: 048
  590. METHOTREXATE [Suspect]
     Active Substance: METHOTREXATE
     Dosage: 2 GRAM, QD (1 EVERY 1 DAYS)
  591. METHOTREXATE [Suspect]
     Active Substance: METHOTREXATE
  592. METHOTREXATE [Suspect]
     Active Substance: METHOTREXATE
  593. METHOTREXATE [Suspect]
     Active Substance: METHOTREXATE
     Route: 048
  594. METHOTREXATE [Suspect]
     Active Substance: METHOTREXATE
     Route: 048
  595. METHOTREXATE [Suspect]
     Active Substance: METHOTREXATE
     Dosage: 15 MILLIGRAM, QD (1 EVERY 1 DAYS)
     Route: 048
  596. METHOTREXATE [Suspect]
     Active Substance: METHOTREXATE
     Dosage: 15 MILLIGRAM, QD (1 EVERY 1 DAYS)
     Route: 048
  597. METHOTREXATE [Suspect]
     Active Substance: METHOTREXATE
     Dosage: 15 MILLIGRAM, QD (1 EVERY 1 DAYS)
  598. METHOTREXATE [Suspect]
     Active Substance: METHOTREXATE
     Dosage: 15 MILLIGRAM, QD (1 EVERY 1 DAYS)
  599. METHOTREXATE [Suspect]
     Active Substance: METHOTREXATE
     Route: 048
  600. METHOTREXATE [Suspect]
     Active Substance: METHOTREXATE
     Route: 048
  601. METHOTREXATE [Suspect]
     Active Substance: METHOTREXATE
  602. METHOTREXATE [Suspect]
     Active Substance: METHOTREXATE
  603. METHOTREXATE [Suspect]
     Active Substance: METHOTREXATE
     Route: 013
  604. METHOTREXATE [Suspect]
     Active Substance: METHOTREXATE
     Route: 013
  605. METHOTREXATE [Suspect]
     Active Substance: METHOTREXATE
  606. METHOTREXATE [Suspect]
     Active Substance: METHOTREXATE
  607. METHOTREXATE [Suspect]
     Active Substance: METHOTREXATE
     Dosage: 20 MILLIGRAM, QD (1 EVERY 1 DAYS)
     Route: 048
  608. METHOTREXATE [Suspect]
     Active Substance: METHOTREXATE
     Dosage: 20 MILLIGRAM, QD (1 EVERY 1 DAYS)
  609. METHOTREXATE [Suspect]
     Active Substance: METHOTREXATE
     Dosage: 20 MILLIGRAM, QD (1 EVERY 1 DAYS)
  610. METHOTREXATE [Suspect]
     Active Substance: METHOTREXATE
     Dosage: 20 MILLIGRAM, QD (1 EVERY 1 DAYS)
     Route: 048
  611. METHOTREXATE [Suspect]
     Active Substance: METHOTREXATE
  612. METHOTREXATE [Suspect]
     Active Substance: METHOTREXATE
  613. METHOTREXATE [Suspect]
     Active Substance: METHOTREXATE
     Route: 058
  614. METHOTREXATE [Suspect]
     Active Substance: METHOTREXATE
     Route: 058
  615. METHOTREXATE [Suspect]
     Active Substance: METHOTREXATE
     Route: 016
  616. METHOTREXATE [Suspect]
     Active Substance: METHOTREXATE
     Route: 016
  617. METHOTREXATE [Suspect]
     Active Substance: METHOTREXATE
  618. METHOTREXATE [Suspect]
     Active Substance: METHOTREXATE
  619. METHOTREXATE [Suspect]
     Active Substance: METHOTREXATE
  620. METHOTREXATE [Suspect]
     Active Substance: METHOTREXATE
     Route: 013
  621. METHOTREXATE [Suspect]
     Active Substance: METHOTREXATE
     Route: 013
  622. METHOTREXATE [Suspect]
     Active Substance: METHOTREXATE
  623. METHOTREXATE [Suspect]
     Active Substance: METHOTREXATE
     Route: 048
  624. METHOTREXATE [Suspect]
     Active Substance: METHOTREXATE
     Route: 048
  625. METHOTREXATE [Suspect]
     Active Substance: METHOTREXATE
  626. METHOTREXATE [Suspect]
     Active Substance: METHOTREXATE
  627. METHOTREXATE [Suspect]
     Active Substance: METHOTREXATE
     Dosage: 2 GRAM, QD (1 EVERY 1 DAYS)
  628. METHOTREXATE [Suspect]
     Active Substance: METHOTREXATE
     Dosage: 2 GRAM, QD (1 EVERY 1 DAYS)
  629. METHOTREXATE [Suspect]
     Active Substance: METHOTREXATE
     Dosage: 2 GRAM, QD (1 EVERY 1 DAYS)
     Route: 048
  630. METHOTREXATE [Suspect]
     Active Substance: METHOTREXATE
     Dosage: 2 GRAM, QD (1 EVERY 1 DAYS)
     Route: 048
  631. METHOTREXATE [Suspect]
     Active Substance: METHOTREXATE
  632. METHOTREXATE [Suspect]
     Active Substance: METHOTREXATE
  633. METHOTREXATE [Suspect]
     Active Substance: METHOTREXATE
     Route: 058
  634. METHOTREXATE [Suspect]
     Active Substance: METHOTREXATE
     Route: 058
  635. METHOTREXATE SODIUM [Suspect]
     Active Substance: METHOTREXATE SODIUM
     Indication: Rheumatoid arthritis
  636. METHOTREXATE SODIUM [Suspect]
     Active Substance: METHOTREXATE SODIUM
     Route: 065
  637. METHOTREXATE SODIUM [Suspect]
     Active Substance: METHOTREXATE SODIUM
     Route: 065
  638. METHOTREXATE SODIUM [Suspect]
     Active Substance: METHOTREXATE SODIUM
  639. MOXIFLOXACIN [Suspect]
     Active Substance: MOXIFLOXACIN
     Indication: Rheumatoid arthritis
  640. MOXIFLOXACIN [Suspect]
     Active Substance: MOXIFLOXACIN
     Route: 058
  641. MOXIFLOXACIN [Suspect]
     Active Substance: MOXIFLOXACIN
     Route: 058
  642. MOXIFLOXACIN [Suspect]
     Active Substance: MOXIFLOXACIN
  643. NAPROXEN [Suspect]
     Active Substance: NAPROXEN
     Indication: Rheumatoid arthritis
  644. NAPROXEN [Suspect]
     Active Substance: NAPROXEN
  645. NAPROXEN [Suspect]
     Active Substance: NAPROXEN
     Route: 065
  646. NAPROXEN [Suspect]
     Active Substance: NAPROXEN
     Route: 065
  647. NAPROXEN [Suspect]
     Active Substance: NAPROXEN
     Dosage: 1 DOSAGE FORM, QD (1 EVERY 1 DAYS)
  648. NAPROXEN [Suspect]
     Active Substance: NAPROXEN
     Dosage: 1 DOSAGE FORM, QD (1 EVERY 1 DAYS)
  649. NAPROXEN [Suspect]
     Active Substance: NAPROXEN
     Dosage: 1 DOSAGE FORM, QD (1 EVERY 1 DAYS)
     Route: 065
  650. NAPROXEN [Suspect]
     Active Substance: NAPROXEN
     Dosage: 1 DOSAGE FORM, QD (1 EVERY 1 DAYS)
     Route: 065
  651. NAPROXEN SODIUM [Suspect]
     Active Substance: NAPROXEN SODIUM
     Indication: Product used for unknown indication
     Route: 065
  652. NAPROXEN SODIUM [Suspect]
     Active Substance: NAPROXEN SODIUM
  653. NAPROXEN SODIUM [Suspect]
     Active Substance: NAPROXEN SODIUM
  654. NAPROXEN SODIUM [Suspect]
     Active Substance: NAPROXEN SODIUM
     Route: 065
  655. NAPROXEN SODIUM [Suspect]
     Active Substance: NAPROXEN SODIUM
     Dosage: 1 DOSAGE FORM, QD (1 EVERY 1 DAYS)
  656. NAPROXEN SODIUM [Suspect]
     Active Substance: NAPROXEN SODIUM
     Dosage: 1 DOSAGE FORM, QD (1 EVERY 1 DAYS)
  657. NAPROXEN SODIUM [Suspect]
     Active Substance: NAPROXEN SODIUM
     Dosage: 1 DOSAGE FORM, QD (1 EVERY 1 DAYS)
     Route: 065
  658. NAPROXEN SODIUM [Suspect]
     Active Substance: NAPROXEN SODIUM
     Dosage: 1 DOSAGE FORM, QD (1 EVERY 1 DAYS)
     Route: 065
  659. NAPROXEN SODIUM [Suspect]
     Active Substance: NAPROXEN SODIUM
     Route: 065
  660. NAPROXEN SODIUM [Suspect]
     Active Substance: NAPROXEN SODIUM
  661. NAPROXEN SODIUM [Suspect]
     Active Substance: NAPROXEN SODIUM
  662. NAPROXEN SODIUM [Suspect]
     Active Substance: NAPROXEN SODIUM
     Route: 065
  663. ORENCIA [Suspect]
     Active Substance: ABATACEPT
     Indication: Rheumatoid arthritis
  664. ORENCIA [Suspect]
     Active Substance: ABATACEPT
     Indication: Psoriatic arthropathy
  665. ORENCIA [Suspect]
     Active Substance: ABATACEPT
     Route: 058
  666. ORENCIA [Suspect]
     Active Substance: ABATACEPT
     Route: 058
  667. ORENCIA [Suspect]
     Active Substance: ABATACEPT
  668. ORENCIA [Suspect]
     Active Substance: ABATACEPT
  669. ORENCIA [Suspect]
     Active Substance: ABATACEPT
     Route: 042
  670. ORENCIA [Suspect]
     Active Substance: ABATACEPT
     Route: 042
  671. ORENCIA [Suspect]
     Active Substance: ABATACEPT
  672. ORENCIA [Suspect]
     Active Substance: ABATACEPT
  673. ORENCIA [Suspect]
     Active Substance: ABATACEPT
     Route: 042
  674. ORENCIA [Suspect]
     Active Substance: ABATACEPT
     Route: 042
  675. ORENCIA [Suspect]
     Active Substance: ABATACEPT
  676. ORENCIA [Suspect]
     Active Substance: ABATACEPT
  677. ORENCIA [Suspect]
     Active Substance: ABATACEPT
     Route: 065
  678. ORENCIA [Suspect]
     Active Substance: ABATACEPT
     Route: 065
  679. ORENCIA [Suspect]
     Active Substance: ABATACEPT
     Dosage: 125 MILLIGRAM, QW
     Dates: start: 2019, end: 2019
  680. ORENCIA [Suspect]
     Active Substance: ABATACEPT
     Dosage: 125 MILLIGRAM, QW
     Route: 065
     Dates: start: 2019, end: 2019
  681. ORENCIA [Suspect]
     Active Substance: ABATACEPT
     Dosage: 125 MILLIGRAM, QW
     Dates: start: 2019, end: 2019
  682. ORENCIA [Suspect]
     Active Substance: ABATACEPT
     Dosage: 125 MILLIGRAM, QW
     Route: 065
     Dates: start: 2019, end: 2019
  683. OTEZLA [Suspect]
     Active Substance: APREMILAST
     Indication: Product used for unknown indication
     Route: 065
  684. OTEZLA [Suspect]
     Active Substance: APREMILAST
  685. OTEZLA [Suspect]
     Active Substance: APREMILAST
  686. OTEZLA [Suspect]
     Active Substance: APREMILAST
     Route: 065
  687. OTEZLA [Suspect]
     Active Substance: APREMILAST
     Dosage: 3 MILLIGRAM, BID (2 EVERY 1 DAYS)
     Route: 048
  688. OTEZLA [Suspect]
     Active Substance: APREMILAST
     Dosage: 3 MILLIGRAM, BID (2 EVERY 1 DAYS)
     Route: 048
  689. OTEZLA [Suspect]
     Active Substance: APREMILAST
     Dosage: 3 MILLIGRAM, BID (2 EVERY 1 DAYS)
  690. OTEZLA [Suspect]
     Active Substance: APREMILAST
     Dosage: 3 MILLIGRAM, BID (2 EVERY 1 DAYS)
  691. OTEZLA [Suspect]
     Active Substance: APREMILAST
     Route: 048
  692. OTEZLA [Suspect]
     Active Substance: APREMILAST
     Route: 048
  693. OTEZLA [Suspect]
     Active Substance: APREMILAST
  694. OTEZLA [Suspect]
     Active Substance: APREMILAST
  695. OTEZLA [Suspect]
     Active Substance: APREMILAST
     Dosage: 6 MILLIGRAM, QD (1 EVERY 1 DAYS)
     Route: 048
  696. OTEZLA [Suspect]
     Active Substance: APREMILAST
     Dosage: 6 MILLIGRAM, QD (1 EVERY 1 DAYS)
  697. OTEZLA [Suspect]
     Active Substance: APREMILAST
     Dosage: 6 MILLIGRAM, QD (1 EVERY 1 DAYS)
  698. OTEZLA [Suspect]
     Active Substance: APREMILAST
     Dosage: 6 MILLIGRAM, QD (1 EVERY 1 DAYS)
     Route: 048
  699. OXYCODONE [Suspect]
     Active Substance: OXYCODONE
     Indication: Product used for unknown indication
  700. OXYCODONE [Suspect]
     Active Substance: OXYCODONE
     Route: 065
  701. OXYCODONE [Suspect]
     Active Substance: OXYCODONE
     Route: 065
  702. OXYCODONE [Suspect]
     Active Substance: OXYCODONE
  703. OXYCODONE TEREPHTHALATE [Suspect]
     Active Substance: OXYCODONE TEREPHTHALATE
     Indication: Product used for unknown indication
  704. OXYCODONE TEREPHTHALATE [Suspect]
     Active Substance: OXYCODONE TEREPHTHALATE
     Route: 065
  705. OXYCODONE TEREPHTHALATE [Suspect]
     Active Substance: OXYCODONE TEREPHTHALATE
     Route: 065
  706. OXYCODONE TEREPHTHALATE [Suspect]
     Active Substance: OXYCODONE TEREPHTHALATE
  707. OXYCODONE [Suspect]
     Active Substance: OXYCODONE
     Indication: Product used for unknown indication
  708. OXYCODONE [Suspect]
     Active Substance: OXYCODONE
     Route: 065
  709. OXYCODONE [Suspect]
     Active Substance: OXYCODONE
     Route: 065
  710. OXYCODONE [Suspect]
     Active Substance: OXYCODONE
  711. PANTOPRAZOLE SODIUM ANHYDROUS [Suspect]
     Active Substance: PANTOPRAZOLE SODIUM ANHYDROUS
     Indication: Product used for unknown indication
  712. PANTOPRAZOLE SODIUM ANHYDROUS [Suspect]
     Active Substance: PANTOPRAZOLE SODIUM ANHYDROUS
  713. PANTOPRAZOLE SODIUM ANHYDROUS [Suspect]
     Active Substance: PANTOPRAZOLE SODIUM ANHYDROUS
     Route: 016
  714. PANTOPRAZOLE SODIUM ANHYDROUS [Suspect]
     Active Substance: PANTOPRAZOLE SODIUM ANHYDROUS
     Route: 016
  715. PANTOPRAZOLE SODIUM ANHYDROUS [Suspect]
     Active Substance: PANTOPRAZOLE SODIUM ANHYDROUS
  716. PANTOPRAZOLE SODIUM ANHYDROUS [Suspect]
     Active Substance: PANTOPRAZOLE SODIUM ANHYDROUS
  717. PANTOPRAZOLE SODIUM ANHYDROUS [Suspect]
     Active Substance: PANTOPRAZOLE SODIUM ANHYDROUS
     Route: 065
  718. PANTOPRAZOLE SODIUM ANHYDROUS [Suspect]
     Active Substance: PANTOPRAZOLE SODIUM ANHYDROUS
     Route: 065
  719. PHTHALYLSULFATHIAZOLE [Suspect]
     Active Substance: PHTHALYLSULFATHIAZOLE
     Indication: Product used for unknown indication
  720. PHTHALYLSULFATHIAZOLE [Suspect]
     Active Substance: PHTHALYLSULFATHIAZOLE
     Route: 016
  721. PHTHALYLSULFATHIAZOLE [Suspect]
     Active Substance: PHTHALYLSULFATHIAZOLE
     Route: 016
  722. PHTHALYLSULFATHIAZOLE [Suspect]
     Active Substance: PHTHALYLSULFATHIAZOLE
  723. PHTHALYLSULFATHIAZOLE [Suspect]
     Active Substance: PHTHALYLSULFATHIAZOLE
  724. PHTHALYLSULFATHIAZOLE [Suspect]
     Active Substance: PHTHALYLSULFATHIAZOLE
     Route: 048
  725. PHTHALYLSULFATHIAZOLE [Suspect]
     Active Substance: PHTHALYLSULFATHIAZOLE
  726. PHTHALYLSULFATHIAZOLE [Suspect]
     Active Substance: PHTHALYLSULFATHIAZOLE
     Route: 048
  727. PHTHALYLSULFATHIAZOLE [Suspect]
     Active Substance: PHTHALYLSULFATHIAZOLE
  728. PHTHALYLSULFATHIAZOLE [Suspect]
     Active Substance: PHTHALYLSULFATHIAZOLE
  729. PHTHALYLSULFATHIAZOLE [Suspect]
     Active Substance: PHTHALYLSULFATHIAZOLE
     Route: 005
  730. PHTHALYLSULFATHIAZOLE [Suspect]
     Active Substance: PHTHALYLSULFATHIAZOLE
     Route: 005
  731. PHTHALYLSULFATHIAZOLE [Suspect]
     Active Substance: PHTHALYLSULFATHIAZOLE
     Route: 065
  732. PHTHALYLSULFATHIAZOLE [Suspect]
     Active Substance: PHTHALYLSULFATHIAZOLE
     Route: 065
  733. PHTHALYLSULFATHIAZOLE [Suspect]
     Active Substance: PHTHALYLSULFATHIAZOLE
  734. PHTHALYLSULFATHIAZOLE [Suspect]
     Active Substance: PHTHALYLSULFATHIAZOLE
  735. PHTHALYLSULFATHIAZOLE [Suspect]
     Active Substance: PHTHALYLSULFATHIAZOLE
  736. PHTHALYLSULFATHIAZOLE [Suspect]
     Active Substance: PHTHALYLSULFATHIAZOLE
  737. PHTHALYLSULFATHIAZOLE [Suspect]
     Active Substance: PHTHALYLSULFATHIAZOLE
     Route: 048
  738. PHTHALYLSULFATHIAZOLE [Suspect]
     Active Substance: PHTHALYLSULFATHIAZOLE
     Route: 048
  739. PLAQUENIL [Suspect]
     Active Substance: HYDROXYCHLOROQUINE SULFATE
     Indication: Rheumatoid arthritis
  740. PLAQUENIL [Suspect]
     Active Substance: HYDROXYCHLOROQUINE SULFATE
  741. PLAQUENIL [Suspect]
     Active Substance: HYDROXYCHLOROQUINE SULFATE
     Route: 005
  742. PLAQUENIL [Suspect]
     Active Substance: HYDROXYCHLOROQUINE SULFATE
     Route: 005
  743. PLAQUENIL [Suspect]
     Active Substance: HYDROXYCHLOROQUINE SULFATE
     Dosage: 400 MILLIGRAM, QD (1 EVERY 1 DAYS)
  744. PLAQUENIL [Suspect]
     Active Substance: HYDROXYCHLOROQUINE SULFATE
     Dosage: 400 MILLIGRAM, QD (1 EVERY 1 DAYS)
  745. PLAQUENIL [Suspect]
     Active Substance: HYDROXYCHLOROQUINE SULFATE
     Dosage: 400 MILLIGRAM, QD (1 EVERY 1 DAYS)
     Route: 065
  746. PLAQUENIL [Suspect]
     Active Substance: HYDROXYCHLOROQUINE SULFATE
     Dosage: 400 MILLIGRAM, QD (1 EVERY 1 DAYS)
     Route: 065
  747. PLAQUENIL [Suspect]
     Active Substance: HYDROXYCHLOROQUINE SULFATE
     Dosage: 400 MILLIGRAM, QD (1 EVERY 1 DAYS)
  748. PLAQUENIL [Suspect]
     Active Substance: HYDROXYCHLOROQUINE SULFATE
     Dosage: 400 MILLIGRAM, QD (1 EVERY 1 DAYS)
  749. PLAQUENIL [Suspect]
     Active Substance: HYDROXYCHLOROQUINE SULFATE
     Dosage: 400 MILLIGRAM, QD (1 EVERY 1 DAYS)
     Route: 048
  750. PLAQUENIL [Suspect]
     Active Substance: HYDROXYCHLOROQUINE SULFATE
     Dosage: 400 MILLIGRAM, QD (1 EVERY 1 DAYS)
     Route: 048
  751. PLAQUENIL [Suspect]
     Active Substance: HYDROXYCHLOROQUINE SULFATE
     Dosage: 400 MILLIGRAM, QD (1 EVERY 1 DAYS)
  752. PLAQUENIL [Suspect]
     Active Substance: HYDROXYCHLOROQUINE SULFATE
     Dosage: 400 MILLIGRAM, QD (1 EVERY 1 DAYS)
  753. PLAQUENIL [Suspect]
     Active Substance: HYDROXYCHLOROQUINE SULFATE
     Dosage: 400 MILLIGRAM, QD (1 EVERY 1 DAYS)
     Route: 066
  754. PLAQUENIL [Suspect]
     Active Substance: HYDROXYCHLOROQUINE SULFATE
     Dosage: 400 MILLIGRAM, QD (1 EVERY 1 DAYS)
     Route: 066
  755. PLAQUENIL [Suspect]
     Active Substance: HYDROXYCHLOROQUINE SULFATE
     Dosage: 1 DOSAGE FORM, QD (1 EVERY 1 DAYS)
  756. PLAQUENIL [Suspect]
     Active Substance: HYDROXYCHLOROQUINE SULFATE
     Dosage: 1 DOSAGE FORM, QD (1 EVERY 1 DAYS)
     Route: 048
  757. PLAQUENIL [Suspect]
     Active Substance: HYDROXYCHLOROQUINE SULFATE
     Dosage: 1 DOSAGE FORM, QD (1 EVERY 1 DAYS)
  758. PLAQUENIL [Suspect]
     Active Substance: HYDROXYCHLOROQUINE SULFATE
     Dosage: 1 DOSAGE FORM, QD (1 EVERY 1 DAYS)
     Route: 048
  759. PREDNISONE [Suspect]
     Active Substance: PREDNISONE
     Indication: Rheumatoid arthritis
  760. PREDNISONE [Suspect]
     Active Substance: PREDNISONE
     Indication: Condition aggravated
  761. PREDNISONE [Suspect]
     Active Substance: PREDNISONE
     Route: 065
  762. PREDNISONE [Suspect]
     Active Substance: PREDNISONE
     Route: 065
  763. PREDNISONE [Suspect]
     Active Substance: PREDNISONE
  764. PREDNISONE [Suspect]
     Active Substance: PREDNISONE
  765. PREDNISONE [Suspect]
     Active Substance: PREDNISONE
     Route: 016
  766. PREDNISONE [Suspect]
     Active Substance: PREDNISONE
     Route: 016
  767. PREDNISONE [Suspect]
     Active Substance: PREDNISONE
  768. PREDNISONE [Suspect]
     Active Substance: PREDNISONE
     Route: 048
  769. PREDNISONE [Suspect]
     Active Substance: PREDNISONE
  770. PREDNISONE [Suspect]
     Active Substance: PREDNISONE
     Route: 048
  771. PREDNISONE [Suspect]
     Active Substance: PREDNISONE
  772. PREDNISONE [Suspect]
     Active Substance: PREDNISONE
  773. PREDNISONE [Suspect]
     Active Substance: PREDNISONE
     Route: 065
  774. PREDNISONE [Suspect]
     Active Substance: PREDNISONE
     Route: 065
  775. PREDNISONE [Suspect]
     Active Substance: PREDNISONE
  776. PREDNISONE [Suspect]
     Active Substance: PREDNISONE
  777. PREDNISONE [Suspect]
     Active Substance: PREDNISONE
     Route: 065
  778. PREDNISONE [Suspect]
     Active Substance: PREDNISONE
     Route: 065
  779. PREDNISONE [Suspect]
     Active Substance: PREDNISONE
  780. PREDNISONE [Suspect]
     Active Substance: PREDNISONE
  781. PREDNISONE [Suspect]
     Active Substance: PREDNISONE
     Route: 048
  782. PREDNISONE [Suspect]
     Active Substance: PREDNISONE
     Route: 048
  783. PREDNISONE [Suspect]
     Active Substance: PREDNISONE
  784. PREDNISONE [Suspect]
     Active Substance: PREDNISONE
  785. PREDNISONE [Suspect]
     Active Substance: PREDNISONE
     Route: 048
  786. PREDNISONE [Suspect]
     Active Substance: PREDNISONE
     Route: 048
  787. PSEUDOEPHEDRINE [Suspect]
     Active Substance: PSEUDOEPHEDRINE
     Indication: Product used for unknown indication
  788. PSEUDOEPHEDRINE [Suspect]
     Active Substance: PSEUDOEPHEDRINE
     Route: 065
  789. PSEUDOEPHEDRINE [Suspect]
     Active Substance: PSEUDOEPHEDRINE
     Route: 065
  790. PSEUDOEPHEDRINE [Suspect]
     Active Substance: PSEUDOEPHEDRINE
  791. PSEUDOEPHEDRINE HYDROCHLORIDE [Suspect]
     Active Substance: PSEUDOEPHEDRINE HYDROCHLORIDE
     Indication: Rheumatoid arthritis
  792. PSEUDOEPHEDRINE HYDROCHLORIDE [Suspect]
     Active Substance: PSEUDOEPHEDRINE HYDROCHLORIDE
     Indication: Off label use
  793. PSEUDOEPHEDRINE HYDROCHLORIDE [Suspect]
     Active Substance: PSEUDOEPHEDRINE HYDROCHLORIDE
     Route: 065
  794. PSEUDOEPHEDRINE HYDROCHLORIDE [Suspect]
     Active Substance: PSEUDOEPHEDRINE HYDROCHLORIDE
     Route: 065
  795. PSEUDOEPHEDRINE HYDROCHLORIDE [Suspect]
     Active Substance: PSEUDOEPHEDRINE HYDROCHLORIDE
  796. PSEUDOEPHEDRINE HYDROCHLORIDE [Suspect]
     Active Substance: PSEUDOEPHEDRINE HYDROCHLORIDE
  797. PSEUDOEPHEDRINE HYDROCHLORIDE [Suspect]
     Active Substance: PSEUDOEPHEDRINE HYDROCHLORIDE
     Route: 065
  798. PSEUDOEPHEDRINE HYDROCHLORIDE [Suspect]
     Active Substance: PSEUDOEPHEDRINE HYDROCHLORIDE
     Route: 065
  799. RAMIPRIL [Suspect]
     Active Substance: RAMIPRIL
     Indication: Product used for unknown indication
  800. RAMIPRIL [Suspect]
     Active Substance: RAMIPRIL
     Route: 065
  801. RAMIPRIL [Suspect]
     Active Substance: RAMIPRIL
     Route: 065
  802. RAMIPRIL [Suspect]
     Active Substance: RAMIPRIL
  803. CETIRIZINE HYDROCHLORIDE [Suspect]
     Active Substance: CETIRIZINE HYDROCHLORIDE
     Indication: Rheumatoid arthritis
     Route: 065
  804. CETIRIZINE HYDROCHLORIDE [Suspect]
     Active Substance: CETIRIZINE HYDROCHLORIDE
     Indication: Urticaria
  805. CETIRIZINE HYDROCHLORIDE [Suspect]
     Active Substance: CETIRIZINE HYDROCHLORIDE
     Indication: Off label use
  806. CETIRIZINE HYDROCHLORIDE [Suspect]
     Active Substance: CETIRIZINE HYDROCHLORIDE
     Route: 065
  807. CETIRIZINE HYDROCHLORIDE [Suspect]
     Active Substance: CETIRIZINE HYDROCHLORIDE
     Route: 065
  808. CETIRIZINE HYDROCHLORIDE [Suspect]
     Active Substance: CETIRIZINE HYDROCHLORIDE
  809. CETIRIZINE HYDROCHLORIDE [Suspect]
     Active Substance: CETIRIZINE HYDROCHLORIDE
  810. CETIRIZINE HYDROCHLORIDE [Suspect]
     Active Substance: CETIRIZINE HYDROCHLORIDE
     Route: 065
  811. CETIRIZINE HYDROCHLORIDE [Suspect]
     Active Substance: CETIRIZINE HYDROCHLORIDE
  812. CETIRIZINE HYDROCHLORIDE [Suspect]
     Active Substance: CETIRIZINE HYDROCHLORIDE
     Route: 048
  813. CETIRIZINE HYDROCHLORIDE [Suspect]
     Active Substance: CETIRIZINE HYDROCHLORIDE
     Route: 048
  814. CETIRIZINE HYDROCHLORIDE [Suspect]
     Active Substance: CETIRIZINE HYDROCHLORIDE
  815. CETIRIZINE HYDROCHLORIDE [Suspect]
     Active Substance: CETIRIZINE HYDROCHLORIDE
  816. CETIRIZINE HYDROCHLORIDE [Suspect]
     Active Substance: CETIRIZINE HYDROCHLORIDE
     Route: 065
  817. CETIRIZINE HYDROCHLORIDE [Suspect]
     Active Substance: CETIRIZINE HYDROCHLORIDE
     Route: 065
  818. CETIRIZINE HYDROCHLORIDE [Suspect]
     Active Substance: CETIRIZINE HYDROCHLORIDE
  819. CETIRIZINE HYDROCHLORIDE [Suspect]
     Active Substance: CETIRIZINE HYDROCHLORIDE
     Route: 005
  820. CETIRIZINE HYDROCHLORIDE [Suspect]
     Active Substance: CETIRIZINE HYDROCHLORIDE
     Route: 005
  821. CETIRIZINE HYDROCHLORIDE [Suspect]
     Active Substance: CETIRIZINE HYDROCHLORIDE
  822. CETIRIZINE HYDROCHLORIDE [Suspect]
     Active Substance: CETIRIZINE HYDROCHLORIDE
  823. CETIRIZINE HYDROCHLORIDE [Suspect]
     Active Substance: CETIRIZINE HYDROCHLORIDE
     Route: 005
  824. CETIRIZINE HYDROCHLORIDE [Suspect]
     Active Substance: CETIRIZINE HYDROCHLORIDE
     Route: 005
  825. CETIRIZINE HYDROCHLORIDE [Suspect]
     Active Substance: CETIRIZINE HYDROCHLORIDE
  826. CETIRIZINE HYDROCHLORIDE [Suspect]
     Active Substance: CETIRIZINE HYDROCHLORIDE
  827. CETIRIZINE HYDROCHLORIDE [Suspect]
     Active Substance: CETIRIZINE HYDROCHLORIDE
  828. CETIRIZINE HYDROCHLORIDE [Suspect]
     Active Substance: CETIRIZINE HYDROCHLORIDE
  829. CETIRIZINE HYDROCHLORIDE [Suspect]
     Active Substance: CETIRIZINE HYDROCHLORIDE
     Route: 048
  830. CETIRIZINE HYDROCHLORIDE [Suspect]
     Active Substance: CETIRIZINE HYDROCHLORIDE
     Route: 048
  831. CETIRIZINE HYDROCHLORIDE\PSEUDOEPHEDRINE HYDROCHLORIDE [Suspect]
     Active Substance: CETIRIZINE HYDROCHLORIDE\PSEUDOEPHEDRINE HYDROCHLORIDE
     Indication: Rheumatoid arthritis
  832. CETIRIZINE HYDROCHLORIDE\PSEUDOEPHEDRINE HYDROCHLORIDE [Suspect]
     Active Substance: CETIRIZINE HYDROCHLORIDE\PSEUDOEPHEDRINE HYDROCHLORIDE
     Indication: Off label use
  833. CETIRIZINE HYDROCHLORIDE\PSEUDOEPHEDRINE HYDROCHLORIDE [Suspect]
     Active Substance: CETIRIZINE HYDROCHLORIDE\PSEUDOEPHEDRINE HYDROCHLORIDE
     Route: 065
  834. CETIRIZINE HYDROCHLORIDE\PSEUDOEPHEDRINE HYDROCHLORIDE [Suspect]
     Active Substance: CETIRIZINE HYDROCHLORIDE\PSEUDOEPHEDRINE HYDROCHLORIDE
     Route: 065
  835. CETIRIZINE HYDROCHLORIDE\PSEUDOEPHEDRINE HYDROCHLORIDE [Suspect]
     Active Substance: CETIRIZINE HYDROCHLORIDE\PSEUDOEPHEDRINE HYDROCHLORIDE
  836. CETIRIZINE HYDROCHLORIDE\PSEUDOEPHEDRINE HYDROCHLORIDE [Suspect]
     Active Substance: CETIRIZINE HYDROCHLORIDE\PSEUDOEPHEDRINE HYDROCHLORIDE
  837. CETIRIZINE HYDROCHLORIDE\PSEUDOEPHEDRINE HYDROCHLORIDE [Suspect]
     Active Substance: CETIRIZINE HYDROCHLORIDE\PSEUDOEPHEDRINE HYDROCHLORIDE
     Route: 065
  838. CETIRIZINE HYDROCHLORIDE\PSEUDOEPHEDRINE HYDROCHLORIDE [Suspect]
     Active Substance: CETIRIZINE HYDROCHLORIDE\PSEUDOEPHEDRINE HYDROCHLORIDE
     Route: 065
  839. CETIRIZINE HYDROCHLORIDE\PSEUDOEPHEDRINE HYDROCHLORIDE [Suspect]
     Active Substance: CETIRIZINE HYDROCHLORIDE\PSEUDOEPHEDRINE HYDROCHLORIDE
  840. CETIRIZINE HYDROCHLORIDE\PSEUDOEPHEDRINE HYDROCHLORIDE [Suspect]
     Active Substance: CETIRIZINE HYDROCHLORIDE\PSEUDOEPHEDRINE HYDROCHLORIDE
     Route: 048
  841. CETIRIZINE HYDROCHLORIDE\PSEUDOEPHEDRINE HYDROCHLORIDE [Suspect]
     Active Substance: CETIRIZINE HYDROCHLORIDE\PSEUDOEPHEDRINE HYDROCHLORIDE
  842. CETIRIZINE HYDROCHLORIDE\PSEUDOEPHEDRINE HYDROCHLORIDE [Suspect]
     Active Substance: CETIRIZINE HYDROCHLORIDE\PSEUDOEPHEDRINE HYDROCHLORIDE
     Route: 048
  843. REMICADE [Suspect]
     Active Substance: INFLIXIMAB
     Indication: Rheumatoid arthritis
  844. REMICADE [Suspect]
     Active Substance: INFLIXIMAB
     Indication: Colitis ulcerative
  845. REMICADE [Suspect]
     Active Substance: INFLIXIMAB
     Route: 065
  846. REMICADE [Suspect]
     Active Substance: INFLIXIMAB
     Route: 065
  847. REMICADE [Suspect]
     Active Substance: INFLIXIMAB
  848. REMICADE [Suspect]
     Active Substance: INFLIXIMAB
  849. REMICADE [Suspect]
     Active Substance: INFLIXIMAB
     Route: 042
  850. REMICADE [Suspect]
     Active Substance: INFLIXIMAB
     Route: 042
  851. REMICADE [Suspect]
     Active Substance: INFLIXIMAB
  852. REMICADE [Suspect]
     Active Substance: INFLIXIMAB
     Route: 042
  853. REMICADE [Suspect]
     Active Substance: INFLIXIMAB
  854. REMICADE [Suspect]
     Active Substance: INFLIXIMAB
     Route: 042
  855. RITUXIMAB [Suspect]
     Active Substance: RITUXIMAB
     Indication: Rheumatoid arthritis
     Route: 065
  856. RITUXIMAB [Suspect]
     Active Substance: RITUXIMAB
  857. RITUXIMAB [Suspect]
     Active Substance: RITUXIMAB
  858. RITUXIMAB [Suspect]
     Active Substance: RITUXIMAB
     Route: 065
  859. RITUXIMAB [Suspect]
     Active Substance: RITUXIMAB
     Route: 058
  860. RITUXIMAB [Suspect]
     Active Substance: RITUXIMAB
  861. RITUXIMAB [Suspect]
     Active Substance: RITUXIMAB
  862. RITUXIMAB [Suspect]
     Active Substance: RITUXIMAB
     Route: 058
  863. RITUXIMAB [Suspect]
     Active Substance: RITUXIMAB
  864. RITUXIMAB [Suspect]
     Active Substance: RITUXIMAB
  865. RITUXIMAB [Suspect]
     Active Substance: RITUXIMAB
     Route: 016
  866. RITUXIMAB [Suspect]
     Active Substance: RITUXIMAB
     Route: 016
  867. RITUXIMAB [Suspect]
     Active Substance: RITUXIMAB
  868. RITUXIMAB [Suspect]
     Active Substance: RITUXIMAB
  869. RITUXIMAB [Suspect]
     Active Substance: RITUXIMAB
     Route: 042
  870. RITUXIMAB [Suspect]
     Active Substance: RITUXIMAB
     Route: 042
  871. DIETARY SUPPLEMENT\HERBALS [Suspect]
     Active Substance: DIETARY SUPPLEMENT\HERBALS
     Indication: Product used for unknown indication
  872. DIETARY SUPPLEMENT\HERBALS [Suspect]
     Active Substance: DIETARY SUPPLEMENT\HERBALS
     Route: 065
  873. DIETARY SUPPLEMENT\HERBALS [Suspect]
     Active Substance: DIETARY SUPPLEMENT\HERBALS
     Route: 065
  874. DIETARY SUPPLEMENT\HERBALS [Suspect]
     Active Substance: DIETARY SUPPLEMENT\HERBALS
  875. SIMPONI [Suspect]
     Active Substance: GOLIMUMAB
     Indication: Rheumatoid arthritis
  876. SIMPONI [Suspect]
     Active Substance: GOLIMUMAB
     Route: 058
  877. SIMPONI [Suspect]
     Active Substance: GOLIMUMAB
     Route: 058
  878. SIMPONI [Suspect]
     Active Substance: GOLIMUMAB
  879. SIMPONI [Suspect]
     Active Substance: GOLIMUMAB
     Route: 058
  880. SIMPONI [Suspect]
     Active Substance: GOLIMUMAB
     Route: 058
  881. SIMPONI [Suspect]
     Active Substance: GOLIMUMAB
  882. SIMPONI [Suspect]
     Active Substance: GOLIMUMAB
  883. SIMPONI [Suspect]
     Active Substance: GOLIMUMAB
  884. SIMPONI [Suspect]
     Active Substance: GOLIMUMAB
     Route: 042
  885. SIMPONI [Suspect]
     Active Substance: GOLIMUMAB
     Route: 042
  886. SIMPONI [Suspect]
     Active Substance: GOLIMUMAB
  887. SIMPONI [Suspect]
     Active Substance: GOLIMUMAB
     Route: 065
  888. SIMPONI [Suspect]
     Active Substance: GOLIMUMAB
     Route: 065
  889. SIMPONI [Suspect]
     Active Substance: GOLIMUMAB
  890. SIMPONI [Suspect]
     Active Substance: GOLIMUMAB
  891. SIMPONI [Suspect]
     Active Substance: GOLIMUMAB
     Route: 058
  892. SIMPONI [Suspect]
     Active Substance: GOLIMUMAB
  893. SIMPONI [Suspect]
     Active Substance: GOLIMUMAB
  894. SIMPONI [Suspect]
     Active Substance: GOLIMUMAB
     Route: 058
  895. SIMPONI [Suspect]
     Active Substance: GOLIMUMAB
  896. SIMPONI [Suspect]
     Active Substance: GOLIMUMAB
  897. SIMPONI [Suspect]
     Active Substance: GOLIMUMAB
     Route: 058
  898. SIMPONI [Suspect]
     Active Substance: GOLIMUMAB
     Route: 058
  899. SIMPONI [Suspect]
     Active Substance: GOLIMUMAB
     Dosage: 50 MILLIGRAM, MONTHLY (1 EVERY 1 MONTHS)
  900. SIMPONI [Suspect]
     Active Substance: GOLIMUMAB
     Dosage: 50 MILLIGRAM, MONTHLY (1 EVERY 1 MONTHS)
     Route: 058
  901. SIMPONI [Suspect]
     Active Substance: GOLIMUMAB
     Dosage: 50 MILLIGRAM, MONTHLY (1 EVERY 1 MONTHS)
  902. SIMPONI [Suspect]
     Active Substance: GOLIMUMAB
     Dosage: 50 MILLIGRAM, MONTHLY (1 EVERY 1 MONTHS)
     Route: 058
  903. SOLU-MEDROL [Suspect]
     Active Substance: METHYLPREDNISOLONE SODIUM SUCCINATE
     Indication: Product used for unknown indication
  904. SOLU-MEDROL [Suspect]
     Active Substance: METHYLPREDNISOLONE SODIUM SUCCINATE
     Route: 065
  905. SOLU-MEDROL [Suspect]
     Active Substance: METHYLPREDNISOLONE SODIUM SUCCINATE
     Route: 065
  906. SOLU-MEDROL [Suspect]
     Active Substance: METHYLPREDNISOLONE SODIUM SUCCINATE
  907. STELARA [Suspect]
     Active Substance: USTEKINUMAB
     Indication: Rheumatoid arthritis
     Route: 065
  908. STELARA [Suspect]
     Active Substance: USTEKINUMAB
     Route: 065
  909. STELARA [Suspect]
     Active Substance: USTEKINUMAB
  910. STELARA [Suspect]
     Active Substance: USTEKINUMAB
  911. STELARA [Suspect]
     Active Substance: USTEKINUMAB
     Route: 058
  912. STELARA [Suspect]
     Active Substance: USTEKINUMAB
     Route: 058
  913. STELARA [Suspect]
     Active Substance: USTEKINUMAB
  914. STELARA [Suspect]
     Active Substance: USTEKINUMAB
  915. STELARA [Suspect]
     Active Substance: USTEKINUMAB
     Route: 042
  916. STELARA [Suspect]
     Active Substance: USTEKINUMAB
     Route: 042
  917. STELARA [Suspect]
     Active Substance: USTEKINUMAB
  918. STELARA [Suspect]
     Active Substance: USTEKINUMAB
  919. STELARA [Suspect]
     Active Substance: USTEKINUMAB
  920. STELARA [Suspect]
     Active Substance: USTEKINUMAB
  921. STELARA [Suspect]
     Active Substance: USTEKINUMAB
     Route: 058
  922. STELARA [Suspect]
     Active Substance: USTEKINUMAB
     Route: 058
  923. STELARA [Suspect]
     Active Substance: USTEKINUMAB
     Route: 042
  924. STELARA [Suspect]
     Active Substance: USTEKINUMAB
     Route: 042
  925. STELARA [Suspect]
     Active Substance: USTEKINUMAB
  926. STELARA [Suspect]
     Active Substance: USTEKINUMAB
  927. FLUMETHASONE PIVALATE [Suspect]
     Active Substance: FLUMETHASONE PIVALATE
     Indication: Rheumatoid arthritis
  928. FLUMETHASONE PIVALATE [Suspect]
     Active Substance: FLUMETHASONE PIVALATE
  929. FLUMETHASONE PIVALATE [Suspect]
     Active Substance: FLUMETHASONE PIVALATE
     Route: 003
  930. FLUMETHASONE PIVALATE [Suspect]
     Active Substance: FLUMETHASONE PIVALATE
     Route: 003
  931. FLUMETHASONE PIVALATE [Suspect]
     Active Substance: FLUMETHASONE PIVALATE
  932. FLUMETHASONE PIVALATE [Suspect]
     Active Substance: FLUMETHASONE PIVALATE
  933. FLUMETHASONE PIVALATE [Suspect]
     Active Substance: FLUMETHASONE PIVALATE
     Route: 058
  934. FLUMETHASONE PIVALATE [Suspect]
     Active Substance: FLUMETHASONE PIVALATE
     Route: 058
  935. SULFASALAZINE [Suspect]
     Active Substance: SULFASALAZINE
     Indication: Rheumatoid arthritis
     Dosage: 50 MILLIGRAM, QD (1 EVERY 1 DAYS)
     Route: 048
  936. SULFASALAZINE [Suspect]
     Active Substance: SULFASALAZINE
     Dosage: 50 MILLIGRAM, QD (1 EVERY 1 DAYS)
     Route: 048
  937. SULFASALAZINE [Suspect]
     Active Substance: SULFASALAZINE
     Dosage: 50 MILLIGRAM, QD (1 EVERY 1 DAYS)
  938. SULFASALAZINE [Suspect]
     Active Substance: SULFASALAZINE
     Dosage: 50 MILLIGRAM, QD (1 EVERY 1 DAYS)
  939. SULFASALAZINE [Suspect]
     Active Substance: SULFASALAZINE
     Dosage: 1 GRAM, BID (2 EVERY 1 DAYS)
  940. SULFASALAZINE [Suspect]
     Active Substance: SULFASALAZINE
     Dosage: 1 GRAM, BID (2 EVERY 1 DAYS)
     Route: 048
  941. SULFASALAZINE [Suspect]
     Active Substance: SULFASALAZINE
     Dosage: 1 GRAM, BID (2 EVERY 1 DAYS)
     Route: 048
  942. SULFASALAZINE [Suspect]
     Active Substance: SULFASALAZINE
     Dosage: 1 GRAM, BID (2 EVERY 1 DAYS)
  943. SULFASALAZINE [Suspect]
     Active Substance: SULFASALAZINE
  944. SULFASALAZINE [Suspect]
     Active Substance: SULFASALAZINE
  945. SULFASALAZINE [Suspect]
     Active Substance: SULFASALAZINE
     Route: 048
  946. SULFASALAZINE [Suspect]
     Active Substance: SULFASALAZINE
     Route: 048
  947. SULFASALAZINE [Suspect]
     Active Substance: SULFASALAZINE
     Route: 065
  948. SULFASALAZINE [Suspect]
     Active Substance: SULFASALAZINE
     Route: 065
  949. SULFASALAZINE [Suspect]
     Active Substance: SULFASALAZINE
  950. SULFASALAZINE [Suspect]
     Active Substance: SULFASALAZINE
  951. SULFASALAZINE [Suspect]
     Active Substance: SULFASALAZINE
     Dosage: 300 MILLIGRAM, QD (1 EVERY 1 DAYS)
     Route: 065
  952. SULFASALAZINE [Suspect]
     Active Substance: SULFASALAZINE
     Dosage: 300 MILLIGRAM, QD (1 EVERY 1 DAYS)
  953. SULFASALAZINE [Suspect]
     Active Substance: SULFASALAZINE
     Dosage: 300 MILLIGRAM, QD (1 EVERY 1 DAYS)
     Route: 065
  954. SULFASALAZINE [Suspect]
     Active Substance: SULFASALAZINE
     Dosage: 300 MILLIGRAM, QD (1 EVERY 1 DAYS)
  955. SULFASALAZINE [Suspect]
     Active Substance: SULFASALAZINE
     Route: 065
  956. SULFASALAZINE [Suspect]
     Active Substance: SULFASALAZINE
  957. SULFASALAZINE [Suspect]
     Active Substance: SULFASALAZINE
  958. SULFASALAZINE [Suspect]
     Active Substance: SULFASALAZINE
     Route: 065
  959. SULFASALAZINE [Suspect]
     Active Substance: SULFASALAZINE
     Dosage: 2 GRAM, QD (1 EVERY 1 DAYS)
  960. SULFASALAZINE [Suspect]
     Active Substance: SULFASALAZINE
     Dosage: 2 GRAM, QD (1 EVERY 1 DAYS)
     Route: 048
  961. SULFASALAZINE [Suspect]
     Active Substance: SULFASALAZINE
     Dosage: 2 GRAM, QD (1 EVERY 1 DAYS)
     Route: 048
  962. SULFASALAZINE [Suspect]
     Active Substance: SULFASALAZINE
     Dosage: 2 GRAM, QD (1 EVERY 1 DAYS)
  963. SULFASALAZINE [Suspect]
     Active Substance: SULFASALAZINE
     Dosage: 1000 MILLIGRAM, BID (2 EVERY 1 DAYS)
     Route: 065
  964. SULFASALAZINE [Suspect]
     Active Substance: SULFASALAZINE
     Dosage: 1000 MILLIGRAM, BID (2 EVERY 1 DAYS)
     Route: 065
  965. SULFASALAZINE [Suspect]
     Active Substance: SULFASALAZINE
     Dosage: 1000 MILLIGRAM, BID (2 EVERY 1 DAYS)
  966. SULFASALAZINE [Suspect]
     Active Substance: SULFASALAZINE
     Dosage: 1000 MILLIGRAM, BID (2 EVERY 1 DAYS)
  967. SULFASALAZINE [Suspect]
     Active Substance: SULFASALAZINE
     Dosage: 1 GRAM, QD (1 EVERY 1 DAYS)
     Route: 048
  968. SULFASALAZINE [Suspect]
     Active Substance: SULFASALAZINE
     Dosage: 1 GRAM, QD (1 EVERY 1 DAYS)
  969. SULFASALAZINE [Suspect]
     Active Substance: SULFASALAZINE
     Dosage: 1 GRAM, QD (1 EVERY 1 DAYS)
  970. SULFASALAZINE [Suspect]
     Active Substance: SULFASALAZINE
     Dosage: 1 GRAM, QD (1 EVERY 1 DAYS)
     Route: 048
  971. SULFASALAZINE [Suspect]
     Active Substance: SULFASALAZINE
  972. SULFASALAZINE [Suspect]
     Active Substance: SULFASALAZINE
     Route: 048
  973. SULFASALAZINE [Suspect]
     Active Substance: SULFASALAZINE
     Route: 048
  974. SULFASALAZINE [Suspect]
     Active Substance: SULFASALAZINE
  975. SULFASALAZINE [Suspect]
     Active Substance: SULFASALAZINE
  976. SULFASALAZINE [Suspect]
     Active Substance: SULFASALAZINE
     Route: 048
  977. SULFASALAZINE [Suspect]
     Active Substance: SULFASALAZINE
     Route: 048
  978. SULFASALAZINE [Suspect]
     Active Substance: SULFASALAZINE
  979. SULFASALAZINE [Suspect]
     Active Substance: SULFASALAZINE
     Dosage: 1 GRAM, QD (1 EVERY 1 DAYS)
  980. SULFASALAZINE [Suspect]
     Active Substance: SULFASALAZINE
     Dosage: 1 GRAM, QD (1 EVERY 1 DAYS)
     Route: 048
  981. SULFASALAZINE [Suspect]
     Active Substance: SULFASALAZINE
     Dosage: 1 GRAM, QD (1 EVERY 1 DAYS)
     Route: 048
  982. SULFASALAZINE [Suspect]
     Active Substance: SULFASALAZINE
     Dosage: 1 GRAM, QD (1 EVERY 1 DAYS)
  983. PANTOPRAZOLE MAGNESIUM [Suspect]
     Active Substance: PANTOPRAZOLE MAGNESIUM
     Indication: Product used for unknown indication
  984. PANTOPRAZOLE MAGNESIUM [Suspect]
     Active Substance: PANTOPRAZOLE MAGNESIUM
  985. PANTOPRAZOLE MAGNESIUM [Suspect]
     Active Substance: PANTOPRAZOLE MAGNESIUM
     Route: 065
  986. PANTOPRAZOLE MAGNESIUM [Suspect]
     Active Substance: PANTOPRAZOLE MAGNESIUM
     Route: 065
  987. PANTOPRAZOLE MAGNESIUM [Suspect]
     Active Substance: PANTOPRAZOLE MAGNESIUM
  988. PANTOPRAZOLE MAGNESIUM [Suspect]
     Active Substance: PANTOPRAZOLE MAGNESIUM
  989. PANTOPRAZOLE MAGNESIUM [Suspect]
     Active Substance: PANTOPRAZOLE MAGNESIUM
     Route: 016
  990. PANTOPRAZOLE MAGNESIUM [Suspect]
     Active Substance: PANTOPRAZOLE MAGNESIUM
     Route: 016
  991. TOPICORT [Suspect]
     Active Substance: DESOXIMETASONE
     Indication: Rheumatoid arthritis
  992. TOPICORT [Suspect]
     Active Substance: DESOXIMETASONE
     Route: 065
  993. TOPICORT [Suspect]
     Active Substance: DESOXIMETASONE
     Route: 065
  994. TOPICORT [Suspect]
     Active Substance: DESOXIMETASONE
  995. FLUMETHASONE PIVALATE [Suspect]
     Active Substance: FLUMETHASONE PIVALATE
     Indication: Rheumatoid arthritis
  996. FLUMETHASONE PIVALATE [Suspect]
     Active Substance: FLUMETHASONE PIVALATE
     Route: 058
  997. FLUMETHASONE PIVALATE [Suspect]
     Active Substance: FLUMETHASONE PIVALATE
     Route: 058
  998. FLUMETHASONE PIVALATE [Suspect]
     Active Substance: FLUMETHASONE PIVALATE
  999. PREDNISONE [Suspect]
     Active Substance: PREDNISONE
     Indication: Systemic lupus erythematosus
     Route: 048
  1000. PREDNISONE [Suspect]
     Active Substance: PREDNISONE
     Indication: Synovitis
  1001. PREDNISONE [Suspect]
     Active Substance: PREDNISONE
     Indication: Rheumatoid arthritis
  1002. PREDNISONE [Suspect]
     Active Substance: PREDNISONE
     Indication: Psoriatic arthropathy
     Route: 048
  1003. PREDNISONE [Suspect]
     Active Substance: PREDNISONE
     Indication: Inflammation
     Route: 065
  1004. PREDNISONE [Suspect]
     Active Substance: PREDNISONE
     Indication: Pemphigus
  1005. PREDNISONE [Suspect]
     Active Substance: PREDNISONE
     Indication: Bursitis
  1006. PREDNISONE [Suspect]
     Active Substance: PREDNISONE
     Route: 065
  1007. PREDNISONE [Suspect]
     Active Substance: PREDNISONE
  1008. PREDNISONE [Suspect]
     Active Substance: PREDNISONE
  1009. PREDNISONE [Suspect]
     Active Substance: PREDNISONE
     Route: 048
  1010. PREDNISONE [Suspect]
     Active Substance: PREDNISONE
     Route: 048
  1011. PREDNISONE [Suspect]
     Active Substance: PREDNISONE
  1012. PREDNISONE [Suspect]
     Active Substance: PREDNISONE
  1013. PREDNISONE [Suspect]
     Active Substance: PREDNISONE
     Route: 065
  1014. PREDNISONE [Suspect]
     Active Substance: PREDNISONE
     Route: 065
  1015. FOSAMAX [Suspect]
     Active Substance: ALENDRONATE SODIUM
     Indication: Rheumatoid arthritis
     Route: 005
  1016. FOSAMAX [Suspect]
     Active Substance: ALENDRONATE SODIUM
  1017. FOSAMAX [Suspect]
     Active Substance: ALENDRONATE SODIUM
  1018. FOSAMAX [Suspect]
     Active Substance: ALENDRONATE SODIUM
     Route: 005
  1019. FOSAMAX [Suspect]
     Active Substance: ALENDRONATE SODIUM
     Route: 058
  1020. FOSAMAX [Suspect]
     Active Substance: ALENDRONATE SODIUM
  1021. FOSAMAX [Suspect]
     Active Substance: ALENDRONATE SODIUM
  1022. FOSAMAX [Suspect]
     Active Substance: ALENDRONATE SODIUM
     Route: 058
  1023. FOSAMAX [Suspect]
     Active Substance: ALENDRONATE SODIUM
  1024. FOSAMAX [Suspect]
     Active Substance: ALENDRONATE SODIUM
  1025. FOSAMAX [Suspect]
     Active Substance: ALENDRONATE SODIUM
     Route: 048
  1026. FOSAMAX [Suspect]
     Active Substance: ALENDRONATE SODIUM
     Route: 048
  1027. FOSAMAX [Suspect]
     Active Substance: ALENDRONATE SODIUM
  1028. FOSAMAX [Suspect]
     Active Substance: ALENDRONATE SODIUM
  1029. FOSAMAX [Suspect]
     Active Substance: ALENDRONATE SODIUM
     Route: 016
  1030. FOSAMAX [Suspect]
     Active Substance: ALENDRONATE SODIUM
     Route: 016
  1031. DICLOFENAC DIETHYLAMINE [Suspect]
     Active Substance: DICLOFENAC DIETHYLAMINE
     Indication: Product used for unknown indication
  1032. DICLOFENAC DIETHYLAMINE [Suspect]
     Active Substance: DICLOFENAC DIETHYLAMINE
     Route: 065
  1033. DICLOFENAC DIETHYLAMINE [Suspect]
     Active Substance: DICLOFENAC DIETHYLAMINE
     Route: 065
  1034. DICLOFENAC DIETHYLAMINE [Suspect]
     Active Substance: DICLOFENAC DIETHYLAMINE
  1035. DICLOFENAC [Suspect]
     Active Substance: DICLOFENAC
     Indication: Rheumatoid arthritis
  1036. DICLOFENAC [Suspect]
     Active Substance: DICLOFENAC
     Indication: Osteoarthritis
  1037. DICLOFENAC [Suspect]
     Active Substance: DICLOFENAC
     Indication: Inflammation
     Route: 065
  1038. DICLOFENAC [Suspect]
     Active Substance: DICLOFENAC
     Route: 065
  1039. DICLOFENAC [Suspect]
     Active Substance: DICLOFENAC
  1040. DICLOFENAC [Suspect]
     Active Substance: DICLOFENAC
  1041. DICLOFENAC [Suspect]
     Active Substance: DICLOFENAC
     Route: 058
  1042. DICLOFENAC [Suspect]
     Active Substance: DICLOFENAC
     Route: 058
  1043. DICLOFENAC [Suspect]
     Active Substance: DICLOFENAC
  1044. DICLOFENAC [Suspect]
     Active Substance: DICLOFENAC
     Route: 065
  1045. DICLOFENAC [Suspect]
     Active Substance: DICLOFENAC
  1046. DICLOFENAC [Suspect]
     Active Substance: DICLOFENAC
     Route: 065
  1047. CALCIUM [Suspect]
     Active Substance: CALCIUM
     Indication: Product used for unknown indication
  1048. CALCIUM [Suspect]
     Active Substance: CALCIUM
     Route: 065
  1049. CALCIUM [Suspect]
     Active Substance: CALCIUM
     Route: 065
  1050. CALCIUM [Suspect]
     Active Substance: CALCIUM
  1051. ALENDRONATE SODIUM [Suspect]
     Active Substance: ALENDRONATE SODIUM
     Indication: Rheumatoid arthritis
  1052. ALENDRONATE SODIUM [Suspect]
     Active Substance: ALENDRONATE SODIUM
  1053. ALENDRONATE SODIUM [Suspect]
     Active Substance: ALENDRONATE SODIUM
     Route: 065
  1054. ALENDRONATE SODIUM [Suspect]
     Active Substance: ALENDRONATE SODIUM
     Route: 065
  1055. ALENDRONATE SODIUM [Suspect]
     Active Substance: ALENDRONATE SODIUM
  1056. ALENDRONATE SODIUM [Suspect]
     Active Substance: ALENDRONATE SODIUM
  1057. ALENDRONATE SODIUM [Suspect]
     Active Substance: ALENDRONATE SODIUM
     Route: 048
  1058. ALENDRONATE SODIUM [Suspect]
     Active Substance: ALENDRONATE SODIUM
     Route: 048
  1059. XELJANZ [Suspect]
     Active Substance: TOFACITINIB CITRATE
     Indication: Rheumatoid arthritis
     Dosage: 5 MILLIGRAM, BID ( 2 EVERY 1 DAYS)
     Route: 048
  1060. XELJANZ [Suspect]
     Active Substance: TOFACITINIB CITRATE
     Dosage: 5 MILLIGRAM, BID ( 2 EVERY 1 DAYS)
  1061. XELJANZ [Suspect]
     Active Substance: TOFACITINIB CITRATE
     Dosage: 5 MILLIGRAM, BID ( 2 EVERY 1 DAYS)
  1062. XELJANZ [Suspect]
     Active Substance: TOFACITINIB CITRATE
     Dosage: 5 MILLIGRAM, BID ( 2 EVERY 1 DAYS)
     Route: 048
  1063. XELJANZ [Suspect]
     Active Substance: TOFACITINIB CITRATE
     Route: 065
  1064. XELJANZ [Suspect]
     Active Substance: TOFACITINIB CITRATE
     Route: 065
  1065. XELJANZ [Suspect]
     Active Substance: TOFACITINIB CITRATE
  1066. XELJANZ [Suspect]
     Active Substance: TOFACITINIB CITRATE
  1067. XELJANZ [Suspect]
     Active Substance: TOFACITINIB CITRATE
     Dosage: 10 MILLIGRAM, QD (1 EVERY 1 DAYS)
  1068. XELJANZ [Suspect]
     Active Substance: TOFACITINIB CITRATE
     Dosage: 10 MILLIGRAM, QD (1 EVERY 1 DAYS)
     Route: 065
  1069. XELJANZ [Suspect]
     Active Substance: TOFACITINIB CITRATE
     Dosage: 10 MILLIGRAM, QD (1 EVERY 1 DAYS)
     Route: 065
  1070. XELJANZ [Suspect]
     Active Substance: TOFACITINIB CITRATE
     Dosage: 10 MILLIGRAM, QD (1 EVERY 1 DAYS)
  1071. XELJANZ [Suspect]
     Active Substance: TOFACITINIB CITRATE
     Dosage: 5 MILLIGRAM, QD (1 EVERY 1 DAYS)
     Route: 016
  1072. XELJANZ [Suspect]
     Active Substance: TOFACITINIB CITRATE
     Dosage: 5 MILLIGRAM, QD (1 EVERY 1 DAYS)
     Route: 016
  1073. XELJANZ [Suspect]
     Active Substance: TOFACITINIB CITRATE
     Dosage: 5 MILLIGRAM, QD (1 EVERY 1 DAYS)
  1074. XELJANZ [Suspect]
     Active Substance: TOFACITINIB CITRATE
     Dosage: 5 MILLIGRAM, QD (1 EVERY 1 DAYS)
  1075. XELJANZ [Suspect]
     Active Substance: TOFACITINIB CITRATE
     Route: 032
  1076. XELJANZ [Suspect]
     Active Substance: TOFACITINIB CITRATE
     Route: 032
  1077. XELJANZ [Suspect]
     Active Substance: TOFACITINIB CITRATE
  1078. XELJANZ [Suspect]
     Active Substance: TOFACITINIB CITRATE
  1079. XELJANZ [Suspect]
     Active Substance: TOFACITINIB CITRATE
  1080. XELJANZ [Suspect]
     Active Substance: TOFACITINIB CITRATE
  1081. XELJANZ [Suspect]
     Active Substance: TOFACITINIB CITRATE
     Route: 065
  1082. XELJANZ [Suspect]
     Active Substance: TOFACITINIB CITRATE
     Route: 065
  1083. XELJANZ [Suspect]
     Active Substance: TOFACITINIB CITRATE
     Route: 005
  1084. XELJANZ [Suspect]
     Active Substance: TOFACITINIB CITRATE
     Route: 005
  1085. XELJANZ [Suspect]
     Active Substance: TOFACITINIB CITRATE
  1086. XELJANZ [Suspect]
     Active Substance: TOFACITINIB CITRATE
  1087. XELJANZ [Suspect]
     Active Substance: TOFACITINIB CITRATE
     Dosage: 5 MILLIGRAM, QD (1 EVERY 1 DAYS)
     Route: 048
  1088. XELJANZ [Suspect]
     Active Substance: TOFACITINIB CITRATE
     Dosage: 5 MILLIGRAM, QD (1 EVERY 1 DAYS)
     Route: 048
  1089. XELJANZ [Suspect]
     Active Substance: TOFACITINIB CITRATE
     Dosage: 5 MILLIGRAM, QD (1 EVERY 1 DAYS)
  1090. XELJANZ [Suspect]
     Active Substance: TOFACITINIB CITRATE
     Dosage: 5 MILLIGRAM, QD (1 EVERY 1 DAYS)
  1091. XELJANZ [Suspect]
     Active Substance: TOFACITINIB CITRATE
  1092. XELJANZ [Suspect]
     Active Substance: TOFACITINIB CITRATE
  1093. XELJANZ [Suspect]
     Active Substance: TOFACITINIB CITRATE
     Route: 048
  1094. XELJANZ [Suspect]
     Active Substance: TOFACITINIB CITRATE
     Route: 048
  1095. FLUMETHASONE [Suspect]
     Active Substance: FLUMETHASONE
     Indication: Product used for unknown indication
  1096. FLUMETHASONE [Suspect]
     Active Substance: FLUMETHASONE
     Route: 065
  1097. FLUMETHASONE [Suspect]
     Active Substance: FLUMETHASONE
     Route: 065
  1098. FLUMETHASONE [Suspect]
     Active Substance: FLUMETHASONE
  1099. VOLTAREN [Suspect]
     Active Substance: DICLOFENAC SODIUM
     Indication: Product used for unknown indication
  1100. VOLTAREN [Suspect]
     Active Substance: DICLOFENAC SODIUM
     Route: 065
  1101. VOLTAREN [Suspect]
     Active Substance: DICLOFENAC SODIUM
     Route: 065
  1102. VOLTAREN [Suspect]
     Active Substance: DICLOFENAC SODIUM
  1103. DOXYCYCLINE HYCLATE [Suspect]
     Active Substance: DOXYCYCLINE HYCLATE
     Indication: Product used for unknown indication
  1104. DOXYCYCLINE HYCLATE [Suspect]
     Active Substance: DOXYCYCLINE HYCLATE
     Route: 065
  1105. DOXYCYCLINE HYCLATE [Suspect]
     Active Substance: DOXYCYCLINE HYCLATE
     Route: 065
  1106. DOXYCYCLINE HYCLATE [Suspect]
     Active Substance: DOXYCYCLINE HYCLATE
  1107. CORTISONE ACETATE [Suspect]
     Active Substance: CORTISONE ACETATE
     Indication: Rheumatoid arthritis
  1108. CORTISONE ACETATE [Suspect]
     Active Substance: CORTISONE ACETATE
     Route: 065
  1109. CORTISONE ACETATE [Suspect]
     Active Substance: CORTISONE ACETATE
     Route: 065
  1110. CORTISONE ACETATE [Suspect]
     Active Substance: CORTISONE ACETATE
  1111. PREDNISONE [Suspect]
     Active Substance: PREDNISONE
     Indication: Rheumatoid arthritis
  1112. PREDNISONE [Suspect]
     Active Substance: PREDNISONE
     Route: 048
  1113. PREDNISONE [Suspect]
     Active Substance: PREDNISONE
     Route: 048
  1114. PREDNISONE [Suspect]
     Active Substance: PREDNISONE
  1115. TOFACITINIB [Suspect]
     Active Substance: TOFACITINIB
     Indication: Product used for unknown indication
  1116. TOFACITINIB [Suspect]
     Active Substance: TOFACITINIB
  1117. TOFACITINIB [Suspect]
     Active Substance: TOFACITINIB
     Route: 065
  1118. TOFACITINIB [Suspect]
     Active Substance: TOFACITINIB
     Route: 065
  1119. TOFACITINIB [Suspect]
     Active Substance: TOFACITINIB
  1120. TOFACITINIB [Suspect]
     Active Substance: TOFACITINIB
  1121. TOFACITINIB [Suspect]
     Active Substance: TOFACITINIB
     Route: 048
  1122. TOFACITINIB [Suspect]
     Active Substance: TOFACITINIB
     Route: 048
  1123. TOFACITINIB [Suspect]
     Active Substance: TOFACITINIB
  1124. TOFACITINIB [Suspect]
     Active Substance: TOFACITINIB
  1125. TOFACITINIB [Suspect]
     Active Substance: TOFACITINIB
     Route: 016
  1126. TOFACITINIB [Suspect]
     Active Substance: TOFACITINIB
     Route: 016
  1127. TOFACITINIB [Suspect]
     Active Substance: TOFACITINIB
     Dosage: 10 MILLIGRAM, QD (1 EVERY 1 DAYS)
  1128. TOFACITINIB [Suspect]
     Active Substance: TOFACITINIB
     Dosage: 10 MILLIGRAM, QD (1 EVERY 1 DAYS)
  1129. TOFACITINIB [Suspect]
     Active Substance: TOFACITINIB
     Dosage: 10 MILLIGRAM, QD (1 EVERY 1 DAYS)
     Route: 016
  1130. TOFACITINIB [Suspect]
     Active Substance: TOFACITINIB
     Dosage: 10 MILLIGRAM, QD (1 EVERY 1 DAYS)
     Route: 016
  1131. TOFACITINIB [Suspect]
     Active Substance: TOFACITINIB
  1132. TOFACITINIB [Suspect]
     Active Substance: TOFACITINIB
     Route: 065
  1133. TOFACITINIB [Suspect]
     Active Substance: TOFACITINIB
  1134. TOFACITINIB [Suspect]
     Active Substance: TOFACITINIB
     Route: 065
  1135. CETIRIZINE HYDROCHLORIDE [Suspect]
     Active Substance: CETIRIZINE HYDROCHLORIDE
     Indication: Rheumatoid arthritis
  1136. CETIRIZINE HYDROCHLORIDE [Suspect]
     Active Substance: CETIRIZINE HYDROCHLORIDE
     Route: 065
  1137. CETIRIZINE HYDROCHLORIDE [Suspect]
     Active Substance: CETIRIZINE HYDROCHLORIDE
     Route: 065
  1138. CETIRIZINE HYDROCHLORIDE [Suspect]
     Active Substance: CETIRIZINE HYDROCHLORIDE
  1139. TOFACITINIB [Suspect]
     Active Substance: TOFACITINIB
     Indication: Rheumatoid arthritis
  1140. TOFACITINIB [Suspect]
     Active Substance: TOFACITINIB
     Indication: Psoriatic arthropathy
  1141. TOFACITINIB [Suspect]
     Active Substance: TOFACITINIB
     Route: 065
  1142. TOFACITINIB [Suspect]
     Active Substance: TOFACITINIB
     Route: 065
  1143. TOFACITINIB [Suspect]
     Active Substance: TOFACITINIB
     Dosage: 5 MILLIGRAM, BID (2 EVERY 1 DAYS)
  1144. TOFACITINIB [Suspect]
     Active Substance: TOFACITINIB
     Dosage: 5 MILLIGRAM, BID (2 EVERY 1 DAYS)
  1145. TOFACITINIB [Suspect]
     Active Substance: TOFACITINIB
     Dosage: 5 MILLIGRAM, BID (2 EVERY 1 DAYS)
     Route: 065
  1146. TOFACITINIB [Suspect]
     Active Substance: TOFACITINIB
     Dosage: 5 MILLIGRAM, BID (2 EVERY 1 DAYS)
     Route: 065
  1147. TOFACITINIB [Suspect]
     Active Substance: TOFACITINIB
     Dosage: 5 MILLIGRAM, QD (1 EVERY 1 DAYS)
  1148. TOFACITINIB [Suspect]
     Active Substance: TOFACITINIB
     Dosage: 5 MILLIGRAM, QD (1 EVERY 1 DAYS)
     Route: 065
  1149. TOFACITINIB [Suspect]
     Active Substance: TOFACITINIB
     Dosage: 5 MILLIGRAM, QD (1 EVERY 1 DAYS)
  1150. TOFACITINIB [Suspect]
     Active Substance: TOFACITINIB
     Dosage: 5 MILLIGRAM, QD (1 EVERY 1 DAYS)
     Route: 065
  1151. TOFACITINIB [Suspect]
     Active Substance: TOFACITINIB
     Dosage: 10 MILLIGRAM, QD (1 EVERY 1 DAYS)
  1152. TOFACITINIB [Suspect]
     Active Substance: TOFACITINIB
     Dosage: 10 MILLIGRAM, QD (1 EVERY 1 DAYS)
  1153. TOFACITINIB [Suspect]
     Active Substance: TOFACITINIB
     Dosage: 10 MILLIGRAM, QD (1 EVERY 1 DAYS)
     Route: 065
  1154. TOFACITINIB [Suspect]
     Active Substance: TOFACITINIB
     Dosage: 10 MILLIGRAM, QD (1 EVERY 1 DAYS)
     Route: 065
  1155. TOFACITINIB [Suspect]
     Active Substance: TOFACITINIB
  1156. TOFACITINIB [Suspect]
     Active Substance: TOFACITINIB
  1157. TOFACITINIB [Suspect]
     Active Substance: TOFACITINIB
     Route: 005
  1158. TOFACITINIB [Suspect]
     Active Substance: TOFACITINIB
     Route: 005
  1159. TOFACITINIB [Suspect]
     Active Substance: TOFACITINIB
  1160. TOFACITINIB [Suspect]
     Active Substance: TOFACITINIB
  1161. TOFACITINIB [Suspect]
     Active Substance: TOFACITINIB
     Route: 032
  1162. TOFACITINIB [Suspect]
     Active Substance: TOFACITINIB
     Route: 032
  1163. TOFACITINIB [Suspect]
     Active Substance: TOFACITINIB
  1164. TOFACITINIB [Suspect]
     Active Substance: TOFACITINIB
  1165. TOFACITINIB [Suspect]
     Active Substance: TOFACITINIB
     Route: 048
  1166. TOFACITINIB [Suspect]
     Active Substance: TOFACITINIB
     Route: 048
  1167. ZYRTEC D 12 HOUR [Suspect]
     Active Substance: CETIRIZINE HYDROCHLORIDE\PSEUDOEPHEDRINE HYDROCHLORIDE
     Indication: Rheumatoid arthritis
  1168. ZYRTEC D 12 HOUR [Suspect]
     Active Substance: CETIRIZINE HYDROCHLORIDE\PSEUDOEPHEDRINE HYDROCHLORIDE
     Route: 065
  1169. ZYRTEC D 12 HOUR [Suspect]
     Active Substance: CETIRIZINE HYDROCHLORIDE\PSEUDOEPHEDRINE HYDROCHLORIDE
     Route: 065
  1170. ZYRTEC D 12 HOUR [Suspect]
     Active Substance: CETIRIZINE HYDROCHLORIDE\PSEUDOEPHEDRINE HYDROCHLORIDE
  1171. ALENDRONIC ACID [Suspect]
     Active Substance: ALENDRONIC ACID
     Indication: Rheumatoid arthritis
  1172. ALENDRONIC ACID [Suspect]
     Active Substance: ALENDRONIC ACID
     Route: 065
  1173. ALENDRONIC ACID [Suspect]
     Active Substance: ALENDRONIC ACID
     Route: 065
  1174. ALENDRONIC ACID [Suspect]
     Active Substance: ALENDRONIC ACID
  1175. DICLOFENAC POTASSIUM [Suspect]
     Active Substance: DICLOFENAC POTASSIUM
     Indication: Rheumatoid arthritis
  1176. DICLOFENAC POTASSIUM [Suspect]
     Active Substance: DICLOFENAC POTASSIUM
     Route: 065
  1177. DICLOFENAC POTASSIUM [Suspect]
     Active Substance: DICLOFENAC POTASSIUM
     Route: 065
  1178. DICLOFENAC POTASSIUM [Suspect]
     Active Substance: DICLOFENAC POTASSIUM
  1179. FOSAMAX [Suspect]
     Active Substance: ALENDRONATE SODIUM
     Indication: Rheumatoid arthritis
  1180. FOSAMAX [Suspect]
     Active Substance: ALENDRONATE SODIUM
  1181. FOSAMAX [Suspect]
     Active Substance: ALENDRONATE SODIUM
     Route: 058
  1182. FOSAMAX [Suspect]
     Active Substance: ALENDRONATE SODIUM
     Route: 058
  1183. FOSAMAX [Suspect]
     Active Substance: ALENDRONATE SODIUM
  1184. FOSAMAX [Suspect]
     Active Substance: ALENDRONATE SODIUM
  1185. FOSAMAX [Suspect]
     Active Substance: ALENDRONATE SODIUM
     Route: 016
  1186. FOSAMAX [Suspect]
     Active Substance: ALENDRONATE SODIUM
     Route: 016
  1187. FOSAMAX [Suspect]
     Active Substance: ALENDRONATE SODIUM
  1188. FOSAMAX [Suspect]
     Active Substance: ALENDRONATE SODIUM
     Route: 005
  1189. FOSAMAX [Suspect]
     Active Substance: ALENDRONATE SODIUM
  1190. FOSAMAX [Suspect]
     Active Substance: ALENDRONATE SODIUM
     Route: 005
  1191. HUMIRA [Suspect]
     Active Substance: ADALIMUMAB
     Indication: Rheumatoid arthritis
  1192. HUMIRA [Suspect]
     Active Substance: ADALIMUMAB
     Indication: Psoriatic arthropathy
     Route: 065
  1193. HUMIRA [Suspect]
     Active Substance: ADALIMUMAB
     Route: 065
  1194. HUMIRA [Suspect]
     Active Substance: ADALIMUMAB
  1195. PREDNISONE [Suspect]
     Active Substance: PREDNISONE
     Indication: Systemic lupus erythematosus
  1196. PREDNISONE [Suspect]
     Active Substance: PREDNISONE
     Indication: Synovitis
  1197. PREDNISONE [Suspect]
     Active Substance: PREDNISONE
     Indication: Rheumatoid arthritis
     Route: 065
  1198. PREDNISONE [Suspect]
     Active Substance: PREDNISONE
     Indication: Psoriatic arthropathy
     Route: 065
  1199. PREDNISONE [Suspect]
     Active Substance: PREDNISONE
     Indication: Pemphigus
  1200. PREDNISONE [Suspect]
     Active Substance: PREDNISONE
     Indication: Inflammation
  1201. PREDNISONE [Suspect]
     Active Substance: PREDNISONE
     Indication: Bursitis
     Route: 048
  1202. PREDNISONE [Suspect]
     Active Substance: PREDNISONE
     Route: 048
  1203. DICLOFENAC POTASSIUM [Suspect]
     Active Substance: DICLOFENAC POTASSIUM
     Indication: Rheumatoid arthritis
  1204. DICLOFENAC POTASSIUM [Suspect]
     Active Substance: DICLOFENAC POTASSIUM
     Route: 065
  1205. DICLOFENAC POTASSIUM [Suspect]
     Active Substance: DICLOFENAC POTASSIUM
     Route: 065
  1206. DICLOFENAC POTASSIUM [Suspect]
     Active Substance: DICLOFENAC POTASSIUM
  1207. PANTOPRAZOLE SODIUM [Suspect]
     Active Substance: PANTOPRAZOLE SODIUM
     Indication: Product used for unknown indication
  1208. PANTOPRAZOLE SODIUM [Suspect]
     Active Substance: PANTOPRAZOLE SODIUM
     Route: 016
  1209. PANTOPRAZOLE SODIUM [Suspect]
     Active Substance: PANTOPRAZOLE SODIUM
     Route: 016
  1210. PANTOPRAZOLE SODIUM [Suspect]
     Active Substance: PANTOPRAZOLE SODIUM
  1211. CETIRIZINE HYDROCHLORIDE [Suspect]
     Active Substance: CETIRIZINE HYDROCHLORIDE
     Indication: Rheumatoid arthritis
  1212. CETIRIZINE HYDROCHLORIDE [Suspect]
     Active Substance: CETIRIZINE HYDROCHLORIDE
     Indication: Urticaria
     Route: 065
  1213. CETIRIZINE HYDROCHLORIDE [Suspect]
     Active Substance: CETIRIZINE HYDROCHLORIDE
     Route: 065
  1214. CETIRIZINE HYDROCHLORIDE [Suspect]
     Active Substance: CETIRIZINE HYDROCHLORIDE
  1215. STELARA [Suspect]
     Active Substance: USTEKINUMAB
     Indication: Rheumatoid arthritis
  1216. STELARA [Suspect]
     Active Substance: USTEKINUMAB
     Route: 058
  1217. STELARA [Suspect]
     Active Substance: USTEKINUMAB
     Route: 058
  1218. STELARA [Suspect]
     Active Substance: USTEKINUMAB
  1219. PANTOPRAZOLE MAGNESIUM [Suspect]
     Active Substance: PANTOPRAZOLE MAGNESIUM
     Indication: Product used for unknown indication
  1220. PANTOPRAZOLE MAGNESIUM [Suspect]
     Active Substance: PANTOPRAZOLE MAGNESIUM
  1221. PANTOPRAZOLE MAGNESIUM [Suspect]
     Active Substance: PANTOPRAZOLE MAGNESIUM
     Route: 065
  1222. PANTOPRAZOLE MAGNESIUM [Suspect]
     Active Substance: PANTOPRAZOLE MAGNESIUM
     Route: 065
  1223. PANTOPRAZOLE MAGNESIUM [Suspect]
     Active Substance: PANTOPRAZOLE MAGNESIUM
  1224. PANTOPRAZOLE MAGNESIUM [Suspect]
     Active Substance: PANTOPRAZOLE MAGNESIUM
  1225. PANTOPRAZOLE MAGNESIUM [Suspect]
     Active Substance: PANTOPRAZOLE MAGNESIUM
     Route: 016
  1226. PANTOPRAZOLE MAGNESIUM [Suspect]
     Active Substance: PANTOPRAZOLE MAGNESIUM
     Route: 016
  1227. REMICADE [Suspect]
     Active Substance: INFLIXIMAB
     Indication: Rheumatoid arthritis
  1228. REMICADE [Suspect]
     Active Substance: INFLIXIMAB
     Indication: Colitis ulcerative
     Route: 065
  1229. REMICADE [Suspect]
     Active Substance: INFLIXIMAB
     Route: 065
  1230. REMICADE [Suspect]
     Active Substance: INFLIXIMAB
  1231. PERIOGARD [Suspect]
     Active Substance: CHLORHEXIDINE GLUCONATE
     Indication: Product used for unknown indication
  1232. PERIOGARD [Suspect]
     Active Substance: CHLORHEXIDINE GLUCONATE
     Route: 002
  1233. PERIOGARD [Suspect]
     Active Substance: CHLORHEXIDINE GLUCONATE
     Route: 002
  1234. PERIOGARD [Suspect]
     Active Substance: CHLORHEXIDINE GLUCONATE
  1235. HYDROCORTISONE BUTYRATE [Suspect]
     Active Substance: HYDROCORTISONE BUTYRATE
     Indication: Rheumatoid arthritis
  1236. HYDROCORTISONE BUTYRATE [Suspect]
     Active Substance: HYDROCORTISONE BUTYRATE
     Route: 048
  1237. HYDROCORTISONE BUTYRATE [Suspect]
     Active Substance: HYDROCORTISONE BUTYRATE
     Route: 048
  1238. HYDROCORTISONE BUTYRATE [Suspect]
     Active Substance: HYDROCORTISONE BUTYRATE
  1239. ACETAMINOPHEN [Suspect]
     Active Substance: ACETAMINOPHEN
     Indication: Rheumatoid arthritis
     Route: 065
  1240. ACETAMINOPHEN [Suspect]
     Active Substance: ACETAMINOPHEN
  1241. ACETAMINOPHEN [Suspect]
     Active Substance: ACETAMINOPHEN
  1242. ACETAMINOPHEN [Suspect]
     Active Substance: ACETAMINOPHEN
     Route: 065
  1243. ACETAMINOPHEN [Suspect]
     Active Substance: ACETAMINOPHEN
     Route: 065
  1244. ACETAMINOPHEN [Suspect]
     Active Substance: ACETAMINOPHEN
  1245. ACETAMINOPHEN [Suspect]
     Active Substance: ACETAMINOPHEN
  1246. ACETAMINOPHEN [Suspect]
     Active Substance: ACETAMINOPHEN
     Route: 065
  1247. ACETAMINOPHEN\CAFFEINE\CODEINE PHOSPHATE [Concomitant]
     Active Substance: ACETAMINOPHEN\CAFFEINE\CODEINE PHOSPHATE
  1248. ACETAMINOPHEN\CAFFEINE\CODEINE PHOSPHATE [Concomitant]
     Active Substance: ACETAMINOPHEN\CAFFEINE\CODEINE PHOSPHATE
     Route: 065
  1249. ACETAMINOPHEN\CAFFEINE\CODEINE PHOSPHATE [Concomitant]
     Active Substance: ACETAMINOPHEN\CAFFEINE\CODEINE PHOSPHATE
     Route: 065
  1250. ACETAMINOPHEN\CAFFEINE\CODEINE PHOSPHATE [Concomitant]
     Active Substance: ACETAMINOPHEN\CAFFEINE\CODEINE PHOSPHATE
  1251. ATIVAN [Concomitant]
     Active Substance: LORAZEPAM
  1252. ATIVAN [Concomitant]
     Active Substance: LORAZEPAM
     Route: 065
  1253. ATIVAN [Concomitant]
     Active Substance: LORAZEPAM
     Route: 065
  1254. ATIVAN [Concomitant]
     Active Substance: LORAZEPAM
  1255. CAFFEINE CITRATE [Concomitant]
     Active Substance: CAFFEINE CITRATE
  1256. CAFFEINE CITRATE [Concomitant]
     Active Substance: CAFFEINE CITRATE
     Route: 065
  1257. CAFFEINE CITRATE [Concomitant]
     Active Substance: CAFFEINE CITRATE
     Route: 065
  1258. CAFFEINE CITRATE [Concomitant]
     Active Substance: CAFFEINE CITRATE
  1259. CAFFEINE [Concomitant]
     Active Substance: CAFFEINE
  1260. CAFFEINE [Concomitant]
     Active Substance: CAFFEINE
     Route: 065
  1261. CAFFEINE [Concomitant]
     Active Substance: CAFFEINE
     Route: 065
  1262. CAFFEINE [Concomitant]
     Active Substance: CAFFEINE
  1263. CODEINE [Concomitant]
     Active Substance: CODEINE
  1264. CODEINE [Concomitant]
     Active Substance: CODEINE
     Route: 065
  1265. CODEINE [Concomitant]
     Active Substance: CODEINE
     Route: 065
  1266. CODEINE [Concomitant]
     Active Substance: CODEINE
  1267. CODEINE PHOSPHATE [Concomitant]
     Active Substance: CODEINE PHOSPHATE
  1268. CODEINE PHOSPHATE [Concomitant]
     Active Substance: CODEINE PHOSPHATE
     Route: 065
  1269. CODEINE PHOSPHATE [Concomitant]
     Active Substance: CODEINE PHOSPHATE
     Route: 065
  1270. CODEINE PHOSPHATE [Concomitant]
     Active Substance: CODEINE PHOSPHATE
  1271. ERGOCALCIFEROL [Concomitant]
     Active Substance: ERGOCALCIFEROL
  1272. ERGOCALCIFEROL [Concomitant]
     Active Substance: ERGOCALCIFEROL
     Route: 065
  1273. ERGOCALCIFEROL [Concomitant]
     Active Substance: ERGOCALCIFEROL
     Route: 065
  1274. ERGOCALCIFEROL [Concomitant]
     Active Substance: ERGOCALCIFEROL
  1275. DICLOFENAC POTASSIUM [Concomitant]
     Active Substance: DICLOFENAC POTASSIUM
  1276. DICLOFENAC POTASSIUM [Concomitant]
     Active Substance: DICLOFENAC POTASSIUM
     Route: 065
  1277. DICLOFENAC POTASSIUM [Concomitant]
     Active Substance: DICLOFENAC POTASSIUM
     Route: 065
  1278. DICLOFENAC POTASSIUM [Concomitant]
     Active Substance: DICLOFENAC POTASSIUM
  1279. DESOGESTREL AND ETHINYL ESTRADIOL [Concomitant]
     Active Substance: DESOGESTREL\ETHINYL ESTRADIOL
  1280. DESOGESTREL AND ETHINYL ESTRADIOL [Concomitant]
     Active Substance: DESOGESTREL\ETHINYL ESTRADIOL
     Route: 065
  1281. DESOGESTREL AND ETHINYL ESTRADIOL [Concomitant]
     Active Substance: DESOGESTREL\ETHINYL ESTRADIOL
     Route: 065
  1282. DESOGESTREL AND ETHINYL ESTRADIOL [Concomitant]
     Active Substance: DESOGESTREL\ETHINYL ESTRADIOL
  1283. GLUCOSAMINE [Concomitant]
     Active Substance: GLUCOSAMINE
  1284. GLUCOSAMINE [Concomitant]
     Active Substance: GLUCOSAMINE
     Route: 065
  1285. GLUCOSAMINE [Concomitant]
     Active Substance: GLUCOSAMINE
     Route: 065
  1286. GLUCOSAMINE [Concomitant]
     Active Substance: GLUCOSAMINE
  1287. LANSOPRAZOLE [Concomitant]
     Active Substance: LANSOPRAZOLE
  1288. LANSOPRAZOLE [Concomitant]
     Active Substance: LANSOPRAZOLE
     Route: 065
  1289. LANSOPRAZOLE [Concomitant]
     Active Substance: LANSOPRAZOLE
     Route: 065
  1290. LANSOPRAZOLE [Concomitant]
     Active Substance: LANSOPRAZOLE
  1291. LEVOTHYROXINE [Concomitant]
     Active Substance: LEVOTHYROXINE
  1292. LEVOTHYROXINE [Concomitant]
     Active Substance: LEVOTHYROXINE
     Route: 065
  1293. LEVOTHYROXINE [Concomitant]
     Active Substance: LEVOTHYROXINE
     Route: 065
  1294. LEVOTHYROXINE [Concomitant]
     Active Substance: LEVOTHYROXINE
  1295. LORAZEPAM [Concomitant]
     Active Substance: LORAZEPAM
  1296. LORAZEPAM [Concomitant]
     Active Substance: LORAZEPAM
     Route: 065
  1297. LORAZEPAM [Concomitant]
     Active Substance: LORAZEPAM
     Route: 065
  1298. LORAZEPAM [Concomitant]
     Active Substance: LORAZEPAM
  1299. MAGNESIUM [Concomitant]
     Active Substance: MAGNESIUM
  1300. MAGNESIUM [Concomitant]
     Active Substance: MAGNESIUM
     Route: 065
  1301. MAGNESIUM [Concomitant]
     Active Substance: MAGNESIUM
     Route: 065
  1302. MAGNESIUM [Concomitant]
     Active Substance: MAGNESIUM
  1303. MELOXICAM [Concomitant]
     Active Substance: MELOXICAM
  1304. MELOXICAM [Concomitant]
     Active Substance: MELOXICAM
     Route: 065
  1305. MELOXICAM [Concomitant]
     Active Substance: MELOXICAM
     Route: 065
  1306. MELOXICAM [Concomitant]
     Active Substance: MELOXICAM
  1307. PANTOPRAZOLE SODIUM [Concomitant]
     Active Substance: PANTOPRAZOLE SODIUM
  1308. PANTOPRAZOLE SODIUM [Concomitant]
     Active Substance: PANTOPRAZOLE SODIUM
     Route: 065
  1309. PANTOPRAZOLE SODIUM [Concomitant]
     Active Substance: PANTOPRAZOLE SODIUM
     Route: 065
  1310. PANTOPRAZOLE SODIUM [Concomitant]
     Active Substance: PANTOPRAZOLE SODIUM
  1311. PREDNISOLONE [Concomitant]
     Active Substance: PREDNISOLONE
  1312. PREDNISOLONE [Concomitant]
     Active Substance: PREDNISOLONE
     Route: 065
  1313. PREDNISOLONE [Concomitant]
     Active Substance: PREDNISOLONE
     Route: 065
  1314. PREDNISOLONE [Concomitant]
     Active Substance: PREDNISOLONE
  1315. PREVACID [Concomitant]
     Active Substance: LANSOPRAZOLE
  1316. PREVACID [Concomitant]
     Active Substance: LANSOPRAZOLE
     Route: 065
  1317. PREVACID [Concomitant]
     Active Substance: LANSOPRAZOLE
     Route: 065
  1318. PREVACID [Concomitant]
     Active Substance: LANSOPRAZOLE
  1319. PIROXICAM [Concomitant]
     Active Substance: PIROXICAM
  1320. PIROXICAM [Concomitant]
     Active Substance: PIROXICAM
     Route: 065
  1321. PIROXICAM [Concomitant]
     Active Substance: PIROXICAM
     Route: 065
  1322. PIROXICAM [Concomitant]
     Active Substance: PIROXICAM
  1323. PRINIVIL [Concomitant]
     Active Substance: LISINOPRIL
  1324. PRINIVIL [Concomitant]
     Active Substance: LISINOPRIL
     Route: 065
  1325. PRINIVIL [Concomitant]
     Active Substance: LISINOPRIL
     Route: 065
  1326. PRINIVIL [Concomitant]
     Active Substance: LISINOPRIL
  1327. MAGNESIUM CARBONATE [Concomitant]
     Active Substance: MAGNESIUM CARBONATE
  1328. MAGNESIUM CARBONATE [Concomitant]
     Active Substance: MAGNESIUM CARBONATE
     Route: 065
  1329. MAGNESIUM CARBONATE [Concomitant]
     Active Substance: MAGNESIUM CARBONATE
     Route: 065
  1330. MAGNESIUM CARBONATE [Concomitant]
     Active Substance: MAGNESIUM CARBONATE
  1331. DESOXIMETASONE [Concomitant]
     Active Substance: DESOXIMETASONE
  1332. DESOXIMETASONE [Concomitant]
     Active Substance: DESOXIMETASONE
     Route: 065
  1333. DESOXIMETASONE [Concomitant]
     Active Substance: DESOXIMETASONE
     Route: 065
  1334. DESOXIMETASONE [Concomitant]
     Active Substance: DESOXIMETASONE
  1335. SULFASALAZINE [Concomitant]
     Active Substance: SULFASALAZINE
  1336. SULFASALAZINE [Concomitant]
     Active Substance: SULFASALAZINE
     Route: 065
  1337. SULFASALAZINE [Concomitant]
     Active Substance: SULFASALAZINE
     Route: 065
  1338. SULFASALAZINE [Concomitant]
     Active Substance: SULFASALAZINE
  1339. RISEDRONATE SODIUM [Concomitant]
     Active Substance: RISEDRONATE SODIUM
  1340. RISEDRONATE SODIUM [Concomitant]
     Active Substance: RISEDRONATE SODIUM
     Route: 065
  1341. RISEDRONATE SODIUM [Concomitant]
     Active Substance: RISEDRONATE SODIUM
     Route: 065
  1342. RISEDRONATE SODIUM [Concomitant]
     Active Substance: RISEDRONATE SODIUM
  1343. LISINOPRIL [Concomitant]
     Active Substance: LISINOPRIL
  1344. LISINOPRIL [Concomitant]
     Active Substance: LISINOPRIL
     Route: 065
  1345. LISINOPRIL [Concomitant]
     Active Substance: LISINOPRIL
     Route: 065
  1346. LISINOPRIL [Concomitant]
     Active Substance: LISINOPRIL
  1347. FISH OIL [Concomitant]
     Active Substance: FISH OIL
  1348. FISH OIL [Concomitant]
     Active Substance: FISH OIL
     Route: 065
  1349. FISH OIL [Concomitant]
     Active Substance: FISH OIL
     Route: 065
  1350. FISH OIL [Concomitant]
     Active Substance: FISH OIL
  1351. TYLENOL [Concomitant]
     Active Substance: ACETAMINOPHEN
  1352. TYLENOL [Concomitant]
     Active Substance: ACETAMINOPHEN
     Route: 065
  1353. TYLENOL [Concomitant]
     Active Substance: ACETAMINOPHEN
     Route: 065
  1354. TYLENOL [Concomitant]
     Active Substance: ACETAMINOPHEN
  1355. ZESTRIL [Concomitant]
     Active Substance: LISINOPRIL
  1356. ZESTRIL [Concomitant]
     Active Substance: LISINOPRIL
     Route: 065
  1357. ZESTRIL [Concomitant]
     Active Substance: LISINOPRIL
     Route: 065
  1358. ZESTRIL [Concomitant]
     Active Substance: LISINOPRIL

REACTIONS (113)
  - Anti-cyclic citrullinated peptide antibody positive [Fatal]
  - Arthralgia [Fatal]
  - Arthropathy [Fatal]
  - Asthenia [Fatal]
  - Asthma [Fatal]
  - Autoimmune disorder [Fatal]
  - Blister [Fatal]
  - Blood cholesterol increased [Fatal]
  - Bursitis [Fatal]
  - C-reactive protein abnormal [Fatal]
  - Condition aggravated [Fatal]
  - Contusion [Fatal]
  - Contraindicated product administered [Fatal]
  - Decreased appetite [Fatal]
  - Discomfort [Fatal]
  - Dry mouth [Fatal]
  - Drug intolerance [Fatal]
  - Facet joint syndrome [Fatal]
  - Fatigue [Fatal]
  - Fibromyalgia [Fatal]
  - Folliculitis [Fatal]
  - Gait inability [Fatal]
  - General physical health deterioration [Fatal]
  - Glossodynia [Fatal]
  - Hand deformity [Fatal]
  - Headache [Fatal]
  - Hip arthroplasty [Fatal]
  - Hypoaesthesia [Fatal]
  - Ill-defined disorder [Fatal]
  - Impaired healing [Fatal]
  - Inflammation [Fatal]
  - Infusion related reaction [Fatal]
  - Joint range of motion decreased [Fatal]
  - Joint swelling [Fatal]
  - Knee arthroplasty [Fatal]
  - Lip dry [Fatal]
  - Lower respiratory tract infection [Fatal]
  - Lung disorder [Fatal]
  - Malaise [Fatal]
  - Mobility decreased [Fatal]
  - Muscle injury [Fatal]
  - Muscle spasms [Fatal]
  - Musculoskeletal pain [Fatal]
  - Musculoskeletal stiffness [Fatal]
  - Night sweats [Fatal]
  - Obesity [Fatal]
  - Osteoarthritis [Fatal]
  - Pain [Fatal]
  - Paraesthesia [Fatal]
  - Pemphigus [Fatal]
  - Pericarditis [Fatal]
  - Peripheral venous disease [Fatal]
  - Pyrexia [Fatal]
  - Psoriatic arthropathy [Fatal]
  - Rheumatic fever [Fatal]
  - Rheumatoid arthritis [Fatal]
  - Rheumatoid factor positive [Fatal]
  - Road traffic accident [Fatal]
  - Sciatica [Fatal]
  - Swollen joint count increased [Fatal]
  - Synovitis [Fatal]
  - Systemic lupus erythematosus [Fatal]
  - Type 2 diabetes mellitus [Fatal]
  - Wheezing [Fatal]
  - Wound [Fatal]
  - Abdominal discomfort [Fatal]
  - Abdominal pain upper [Fatal]
  - Alopecia [Fatal]
  - Anxiety [Fatal]
  - Chest pain [Fatal]
  - Confusional state [Fatal]
  - Diarrhoea [Fatal]
  - Dizziness [Fatal]
  - Drug hypersensitivity [Fatal]
  - Deep vein thrombosis postoperative [Fatal]
  - Duodenal ulcer perforation [Fatal]
  - Dyspnoea [Fatal]
  - Gastrointestinal disorder [Fatal]
  - Helicobacter infection [Fatal]
  - Hepatic enzyme increased [Fatal]
  - Hypersensitivity [Fatal]
  - Hypertension [Fatal]
  - Infection [Fatal]
  - Injury [Fatal]
  - Irritable bowel syndrome [Fatal]
  - Liver disorder [Fatal]
  - Liver injury [Fatal]
  - Lower limb fracture [Fatal]
  - Nasopharyngitis [Fatal]
  - Oedema [Fatal]
  - Peripheral swelling [Fatal]
  - Pruritus [Fatal]
  - Rash [Fatal]
  - Sinusitis [Fatal]
  - Sleep disorder due to general medical condition, insomnia type [Fatal]
  - Stomatitis [Fatal]
  - Swelling [Fatal]
  - Urticaria [Fatal]
  - Vomiting [Fatal]
  - Weight increased [Fatal]
  - Swollen joint count [Fatal]
  - Tender joint count [Fatal]
  - Drug ineffective [Fatal]
  - Therapeutic product effect decreased [Fatal]
  - Product use in unapproved indication [Fatal]
  - Therapy non-responder [Fatal]
  - Intentional product use issue [Fatal]
  - Treatment failure [Fatal]
  - Off label use [Fatal]
  - Product use issue [Fatal]
  - Maternal exposure during pregnancy [Fatal]
  - Prescribed overdose [Fatal]
  - Pregnancy [Fatal]
